FAERS Safety Report 23487528 (Version 5)
Quarter: 2025Q2

REPORT INFORMATION
  Report Type: Spontaneous
  Country: CA (occurrence: CA)
  Receive Date: 20240206
  Receipt Date: 20250604
  Transmission Date: 20250716
  Serious: Yes (Hospitalization, Other)
  Sender: MYLAN
  Company Number: CA-MYLANLABS-2024M1011164

PATIENT
  Age: 47 Year
  Sex: Female

DRUGS (784)
  1. GABAPENTIN [Interacting]
     Active Substance: GABAPENTIN
     Indication: Scoliosis
     Dosage: 600 MILLIGRAM, TID (3 EVERY 1 DAYS)
  2. GABAPENTIN [Interacting]
     Active Substance: GABAPENTIN
     Indication: Pain
     Dosage: 600 MILLIGRAM, TID (3 EVERY 1 DAYS)
  3. GABAPENTIN [Interacting]
     Active Substance: GABAPENTIN
     Dosage: 600 MILLIGRAM, TID (3 EVERY 1 DAYS)
     Route: 048
  4. GABAPENTIN [Interacting]
     Active Substance: GABAPENTIN
     Dosage: 600 MILLIGRAM, TID (3 EVERY 1 DAYS)
     Route: 048
  5. GABAPENTIN [Interacting]
     Active Substance: GABAPENTIN
     Dosage: 600 MILLIGRAM, QID (4 EVERY 1 DAYS)
  6. GABAPENTIN [Interacting]
     Active Substance: GABAPENTIN
     Dosage: 600 MILLIGRAM, QID (4 EVERY 1 DAYS)
     Route: 048
  7. GABAPENTIN [Interacting]
     Active Substance: GABAPENTIN
     Dosage: 600 MILLIGRAM, QID (4 EVERY 1 DAYS)
  8. GABAPENTIN [Interacting]
     Active Substance: GABAPENTIN
     Dosage: 600 MILLIGRAM, QID (4 EVERY 1 DAYS)
     Route: 048
  9. GABAPENTIN [Interacting]
     Active Substance: GABAPENTIN
     Dosage: 400 MILLIGRAM, QID (4 EVERY 1 DAYS)
     Route: 048
  10. GABAPENTIN [Interacting]
     Active Substance: GABAPENTIN
     Dosage: 400 MILLIGRAM, QID (4 EVERY 1 DAYS)
  11. GABAPENTIN [Interacting]
     Active Substance: GABAPENTIN
     Dosage: 400 MILLIGRAM, QID (4 EVERY 1 DAYS)
     Route: 048
  12. GABAPENTIN [Interacting]
     Active Substance: GABAPENTIN
     Dosage: 400 MILLIGRAM, QID (4 EVERY 1 DAYS)
  13. GABAPENTIN [Interacting]
     Active Substance: GABAPENTIN
     Dosage: 400 MILLIGRAM, QID (4 EVERY 1 DAYS)
  14. GABAPENTIN [Interacting]
     Active Substance: GABAPENTIN
     Dosage: 400 MILLIGRAM, QID (4 EVERY 1 DAYS)
     Route: 065
  15. GABAPENTIN [Interacting]
     Active Substance: GABAPENTIN
     Dosage: 400 MILLIGRAM, QID (4 EVERY 1 DAYS)
     Route: 065
  16. GABAPENTIN [Interacting]
     Active Substance: GABAPENTIN
     Dosage: 400 MILLIGRAM, QID (4 EVERY 1 DAYS)
  17. GABAPENTIN [Interacting]
     Active Substance: GABAPENTIN
  18. GABAPENTIN [Interacting]
     Active Substance: GABAPENTIN
     Route: 065
  19. GABAPENTIN [Interacting]
     Active Substance: GABAPENTIN
     Route: 065
  20. GABAPENTIN [Interacting]
     Active Substance: GABAPENTIN
  21. GABAPENTIN [Interacting]
     Active Substance: GABAPENTIN
     Dosage: 600 MILLIGRAM, TID (3 EVERY 1 DAYS)
     Route: 048
  22. GABAPENTIN [Interacting]
     Active Substance: GABAPENTIN
     Dosage: 600 MILLIGRAM, TID (3 EVERY 1 DAYS)
     Route: 048
  23. GABAPENTIN [Interacting]
     Active Substance: GABAPENTIN
     Dosage: 600 MILLIGRAM, TID (3 EVERY 1 DAYS)
  24. GABAPENTIN [Interacting]
     Active Substance: GABAPENTIN
     Dosage: 600 MILLIGRAM, TID (3 EVERY 1 DAYS)
  25. GABAPENTIN [Interacting]
     Active Substance: GABAPENTIN
     Dosage: 600 MILLIGRAM, Q3D (1 EVERY .3 DAYS)
     Route: 048
  26. GABAPENTIN [Interacting]
     Active Substance: GABAPENTIN
     Dosage: 600 MILLIGRAM, Q3D (1 EVERY .3 DAYS)
  27. GABAPENTIN [Interacting]
     Active Substance: GABAPENTIN
     Dosage: 600 MILLIGRAM, Q3D (1 EVERY .3 DAYS)
  28. GABAPENTIN [Interacting]
     Active Substance: GABAPENTIN
     Dosage: 600 MILLIGRAM, Q3D (1 EVERY .3 DAYS)
     Route: 048
  29. GABAPENTIN [Interacting]
     Active Substance: GABAPENTIN
     Route: 065
  30. GABAPENTIN [Interacting]
     Active Substance: GABAPENTIN
     Route: 065
  31. GABAPENTIN [Interacting]
     Active Substance: GABAPENTIN
  32. GABAPENTIN [Interacting]
     Active Substance: GABAPENTIN
  33. GABAPENTIN [Interacting]
     Active Substance: GABAPENTIN
     Route: 048
  34. GABAPENTIN [Interacting]
     Active Substance: GABAPENTIN
     Route: 048
  35. GABAPENTIN [Interacting]
     Active Substance: GABAPENTIN
  36. GABAPENTIN [Interacting]
     Active Substance: GABAPENTIN
  37. GABAPENTIN [Interacting]
     Active Substance: GABAPENTIN
  38. GABAPENTIN [Interacting]
     Active Substance: GABAPENTIN
     Route: 048
  39. GABAPENTIN [Interacting]
     Active Substance: GABAPENTIN
     Route: 048
  40. GABAPENTIN [Interacting]
     Active Substance: GABAPENTIN
  41. GABAPENTIN [Interacting]
     Active Substance: GABAPENTIN
     Dosage: 600 MILLIGRAM, Q8H (1 EVERY 8 HOURS)
  42. GABAPENTIN [Interacting]
     Active Substance: GABAPENTIN
     Dosage: 600 MILLIGRAM, Q8H (1 EVERY 8 HOURS)
  43. GABAPENTIN [Interacting]
     Active Substance: GABAPENTIN
     Dosage: 600 MILLIGRAM, Q8H (1 EVERY 8 HOURS)
     Route: 048
  44. GABAPENTIN [Interacting]
     Active Substance: GABAPENTIN
     Dosage: 600 MILLIGRAM, Q8H (1 EVERY 8 HOURS)
     Route: 048
  45. VALPROATE [Interacting]
     Active Substance: VALPROIC ACID
     Indication: Mania
     Route: 048
  46. VALPROATE [Interacting]
     Active Substance: VALPROIC ACID
     Indication: Affective disorder
  47. VALPROATE [Interacting]
     Active Substance: VALPROIC ACID
  48. VALPROATE [Interacting]
     Active Substance: VALPROIC ACID
     Route: 048
  49. VALPROATE [Interacting]
     Active Substance: VALPROIC ACID
     Dosage: 250 MILLIGRAM, QD (1 EVERY 1 DAYS)
  50. VALPROATE [Interacting]
     Active Substance: VALPROIC ACID
     Dosage: 250 MILLIGRAM, QD (1 EVERY 1 DAYS)
  51. VALPROATE [Interacting]
     Active Substance: VALPROIC ACID
     Dosage: 250 MILLIGRAM, QD (1 EVERY 1 DAYS)
     Route: 048
  52. VALPROATE [Interacting]
     Active Substance: VALPROIC ACID
     Dosage: 250 MILLIGRAM, QD (1 EVERY 1 DAYS)
     Route: 048
  53. VALPROATE [Interacting]
     Active Substance: VALPROIC ACID
     Dosage: 500 MILLIGRAM, QD (1 EVERY 1 DAYS)
     Route: 048
  54. VALPROATE [Interacting]
     Active Substance: VALPROIC ACID
     Dosage: 500 MILLIGRAM, QD (1 EVERY 1 DAYS)
  55. VALPROATE [Interacting]
     Active Substance: VALPROIC ACID
     Dosage: 500 MILLIGRAM, QD (1 EVERY 1 DAYS)
  56. VALPROATE [Interacting]
     Active Substance: VALPROIC ACID
     Dosage: 500 MILLIGRAM, QD (1 EVERY 1 DAYS)
     Route: 048
  57. VALPROATE [Interacting]
     Active Substance: VALPROIC ACID
  58. VALPROATE [Interacting]
     Active Substance: VALPROIC ACID
  59. VALPROATE [Interacting]
     Active Substance: VALPROIC ACID
     Route: 048
  60. VALPROATE [Interacting]
     Active Substance: VALPROIC ACID
     Route: 048
  61. VALPROATE [Interacting]
     Active Substance: VALPROIC ACID
  62. VALPROATE [Interacting]
     Active Substance: VALPROIC ACID
  63. VALPROATE [Interacting]
     Active Substance: VALPROIC ACID
     Route: 048
  64. VALPROATE [Interacting]
     Active Substance: VALPROIC ACID
     Route: 048
  65. VALPROATE [Interacting]
     Active Substance: VALPROIC ACID
     Dosage: 750 MILLIGRAM, QD (1 EVERY 1 DAYS)
  66. VALPROATE [Interacting]
     Active Substance: VALPROIC ACID
     Dosage: 750 MILLIGRAM, QD (1 EVERY 1 DAYS)
     Route: 048
  67. VALPROATE [Interacting]
     Active Substance: VALPROIC ACID
     Dosage: 750 MILLIGRAM, QD (1 EVERY 1 DAYS)
  68. VALPROATE [Interacting]
     Active Substance: VALPROIC ACID
     Dosage: 750 MILLIGRAM, QD (1 EVERY 1 DAYS)
     Route: 048
  69. DIVALPROEX SODIUM [Interacting]
     Active Substance: DIVALPROEX SODIUM
     Indication: Mania
  70. DIVALPROEX SODIUM [Interacting]
     Active Substance: DIVALPROEX SODIUM
     Indication: Affective disorder
  71. DIVALPROEX SODIUM [Interacting]
     Active Substance: DIVALPROEX SODIUM
     Route: 048
  72. DIVALPROEX SODIUM [Interacting]
     Active Substance: DIVALPROEX SODIUM
     Route: 048
  73. DIVALPROEX SODIUM [Interacting]
     Active Substance: DIVALPROEX SODIUM
  74. DIVALPROEX SODIUM [Interacting]
     Active Substance: DIVALPROEX SODIUM
  75. DIVALPROEX SODIUM [Interacting]
     Active Substance: DIVALPROEX SODIUM
     Route: 048
  76. DIVALPROEX SODIUM [Interacting]
     Active Substance: DIVALPROEX SODIUM
     Route: 048
  77. DIVALPROEX SODIUM [Interacting]
     Active Substance: DIVALPROEX SODIUM
     Indication: Affective disorder
     Dosage: 250 MILLIGRAM, QD (1 EVERY 1 DAYS)
  78. DIVALPROEX SODIUM [Interacting]
     Active Substance: DIVALPROEX SODIUM
     Indication: Mania
     Dosage: 250 MILLIGRAM, QD (1 EVERY 1 DAYS)
  79. DIVALPROEX SODIUM [Interacting]
     Active Substance: DIVALPROEX SODIUM
     Dosage: 250 MILLIGRAM, QD (1 EVERY 1 DAYS)
     Route: 048
  80. DIVALPROEX SODIUM [Interacting]
     Active Substance: DIVALPROEX SODIUM
     Dosage: 250 MILLIGRAM, QD (1 EVERY 1 DAYS)
     Route: 048
  81. DIVALPROEX SODIUM [Interacting]
     Active Substance: DIVALPROEX SODIUM
     Dosage: 750 MILLIGRAM, QD (1 EVERY 1 DAYS)
  82. DIVALPROEX SODIUM [Interacting]
     Active Substance: DIVALPROEX SODIUM
     Dosage: 750 MILLIGRAM, QD (1 EVERY 1 DAYS)
  83. DIVALPROEX SODIUM [Interacting]
     Active Substance: DIVALPROEX SODIUM
     Dosage: 750 MILLIGRAM, QD (1 EVERY 1 DAYS)
     Route: 048
  84. DIVALPROEX SODIUM [Interacting]
     Active Substance: DIVALPROEX SODIUM
     Dosage: 750 MILLIGRAM, QD (1 EVERY 1 DAYS)
     Route: 048
  85. DIVALPROEX SODIUM [Interacting]
     Active Substance: DIVALPROEX SODIUM
     Dosage: 500 MILLIGRAM, QD (1 EVERY 1 DAYS)
  86. DIVALPROEX SODIUM [Interacting]
     Active Substance: DIVALPROEX SODIUM
     Dosage: 500 MILLIGRAM, QD (1 EVERY 1 DAYS)
     Route: 048
  87. DIVALPROEX SODIUM [Interacting]
     Active Substance: DIVALPROEX SODIUM
     Dosage: 500 MILLIGRAM, QD (1 EVERY 1 DAYS)
  88. DIVALPROEX SODIUM [Interacting]
     Active Substance: DIVALPROEX SODIUM
     Dosage: 500 MILLIGRAM, QD (1 EVERY 1 DAYS)
     Route: 048
  89. CYCLOBENZAPRINE [Interacting]
     Active Substance: CYCLOBENZAPRINE
     Indication: Scoliosis
  90. CYCLOBENZAPRINE [Interacting]
     Active Substance: CYCLOBENZAPRINE
     Indication: Pain
  91. CYCLOBENZAPRINE [Interacting]
     Active Substance: CYCLOBENZAPRINE
     Route: 048
  92. CYCLOBENZAPRINE [Interacting]
     Active Substance: CYCLOBENZAPRINE
     Route: 048
  93. CYCLOBENZAPRINE [Interacting]
     Active Substance: CYCLOBENZAPRINE
     Dosage: 10 MILLIGRAM, TID (3 EVERY 1 DAYS)
     Route: 048
  94. CYCLOBENZAPRINE [Interacting]
     Active Substance: CYCLOBENZAPRINE
     Dosage: 10 MILLIGRAM, TID (3 EVERY 1 DAYS)
     Route: 048
  95. CYCLOBENZAPRINE [Interacting]
     Active Substance: CYCLOBENZAPRINE
     Dosage: 10 MILLIGRAM, TID (3 EVERY 1 DAYS)
  96. CYCLOBENZAPRINE [Interacting]
     Active Substance: CYCLOBENZAPRINE
     Dosage: 10 MILLIGRAM, TID (3 EVERY 1 DAYS)
  97. CYCLOBENZAPRINE [Interacting]
     Active Substance: CYCLOBENZAPRINE
     Dosage: 10 MILLIGRAM, BID ( 2 EVERY 1 DAYS)
  98. CYCLOBENZAPRINE [Interacting]
     Active Substance: CYCLOBENZAPRINE
     Dosage: 10 MILLIGRAM, BID ( 2 EVERY 1 DAYS)
     Route: 048
  99. CYCLOBENZAPRINE [Interacting]
     Active Substance: CYCLOBENZAPRINE
     Dosage: 10 MILLIGRAM, BID ( 2 EVERY 1 DAYS)
     Route: 048
  100. CYCLOBENZAPRINE [Interacting]
     Active Substance: CYCLOBENZAPRINE
     Dosage: 10 MILLIGRAM, BID ( 2 EVERY 1 DAYS)
  101. CYCLOBENZAPRINE [Interacting]
     Active Substance: CYCLOBENZAPRINE
     Dosage: 50 MILLIGRAM, BID (1 EVERY 2 DAYS)
     Route: 048
  102. CYCLOBENZAPRINE [Interacting]
     Active Substance: CYCLOBENZAPRINE
     Dosage: 50 MILLIGRAM, BID (1 EVERY 2 DAYS)
  103. CYCLOBENZAPRINE [Interacting]
     Active Substance: CYCLOBENZAPRINE
     Dosage: 50 MILLIGRAM, BID (1 EVERY 2 DAYS)
  104. CYCLOBENZAPRINE [Interacting]
     Active Substance: CYCLOBENZAPRINE
     Dosage: 50 MILLIGRAM, BID (1 EVERY 2 DAYS)
     Route: 048
  105. CYCLOBENZAPRINE [Interacting]
     Active Substance: CYCLOBENZAPRINE
     Dosage: 10 MILLIGRAM, BID ( 2 EVERY 1 DAYS)
     Route: 048
  106. CYCLOBENZAPRINE [Interacting]
     Active Substance: CYCLOBENZAPRINE
     Dosage: 10 MILLIGRAM, BID ( 2 EVERY 1 DAYS)
     Route: 048
  107. CYCLOBENZAPRINE [Interacting]
     Active Substance: CYCLOBENZAPRINE
     Dosage: 10 MILLIGRAM, BID ( 2 EVERY 1 DAYS)
  108. CYCLOBENZAPRINE [Interacting]
     Active Substance: CYCLOBENZAPRINE
     Dosage: 10 MILLIGRAM, BID ( 2 EVERY 1 DAYS)
  109. CYCLOBENZAPRINE [Interacting]
     Active Substance: CYCLOBENZAPRINE
     Route: 048
  110. CYCLOBENZAPRINE [Interacting]
     Active Substance: CYCLOBENZAPRINE
     Route: 048
  111. CYCLOBENZAPRINE [Interacting]
     Active Substance: CYCLOBENZAPRINE
  112. CYCLOBENZAPRINE [Interacting]
     Active Substance: CYCLOBENZAPRINE
  113. CYCLOBENZAPRINE [Interacting]
     Active Substance: CYCLOBENZAPRINE
     Dosage: 10 MILLIGRAM, QD (1 EVERY 1 DAYS)
  114. CYCLOBENZAPRINE [Interacting]
     Active Substance: CYCLOBENZAPRINE
     Dosage: 10 MILLIGRAM, QD (1 EVERY 1 DAYS)
     Route: 048
  115. CYCLOBENZAPRINE [Interacting]
     Active Substance: CYCLOBENZAPRINE
     Dosage: 10 MILLIGRAM, QD (1 EVERY 1 DAYS)
     Route: 048
  116. CYCLOBENZAPRINE [Interacting]
     Active Substance: CYCLOBENZAPRINE
     Dosage: 10 MILLIGRAM, QD (1 EVERY 1 DAYS)
  117. CYCLOBENZAPRINE [Interacting]
     Active Substance: CYCLOBENZAPRINE
  118. CYCLOBENZAPRINE [Interacting]
     Active Substance: CYCLOBENZAPRINE
  119. CYCLOBENZAPRINE [Interacting]
     Active Substance: CYCLOBENZAPRINE
     Route: 048
  120. CYCLOBENZAPRINE [Interacting]
     Active Substance: CYCLOBENZAPRINE
     Route: 048
  121. DOXEPIN [Interacting]
     Active Substance: DOXEPIN
     Indication: Major depression
     Dosage: 50 MILLIGRAM, QD (1 EVERY 1 DAYS)
  122. DOXEPIN [Interacting]
     Active Substance: DOXEPIN
     Dosage: 50 MILLIGRAM, QD (1 EVERY 1 DAYS)
  123. DOXEPIN [Interacting]
     Active Substance: DOXEPIN
     Dosage: 50 MILLIGRAM, QD (1 EVERY 1 DAYS)
     Route: 048
  124. DOXEPIN [Interacting]
     Active Substance: DOXEPIN
     Dosage: 50 MILLIGRAM, QD (1 EVERY 1 DAYS)
     Route: 048
  125. DOXEPIN [Interacting]
     Active Substance: DOXEPIN
     Dosage: 100 MILLIGRAM, QD (1 EVERY 1 DAYS)
  126. DOXEPIN [Interacting]
     Active Substance: DOXEPIN
     Dosage: 100 MILLIGRAM, QD (1 EVERY 1 DAYS)
  127. DOXEPIN [Interacting]
     Active Substance: DOXEPIN
     Dosage: 100 MILLIGRAM, QD (1 EVERY 1 DAYS)
     Route: 048
  128. DOXEPIN [Interacting]
     Active Substance: DOXEPIN
     Dosage: 100 MILLIGRAM, QD (1 EVERY 1 DAYS)
     Route: 048
  129. DOXEPIN [Interacting]
     Active Substance: DOXEPIN
     Dosage: 150 MILLIGRAM, QD (1 EVERY 1 DAYS)
  130. DOXEPIN [Interacting]
     Active Substance: DOXEPIN
     Dosage: 150 MILLIGRAM, QD (1 EVERY 1 DAYS)
     Route: 048
  131. DOXEPIN [Interacting]
     Active Substance: DOXEPIN
     Dosage: 150 MILLIGRAM, QD (1 EVERY 1 DAYS)
  132. DOXEPIN [Interacting]
     Active Substance: DOXEPIN
     Dosage: 150 MILLIGRAM, QD (1 EVERY 1 DAYS)
     Route: 048
  133. QUETIAPINE [Interacting]
     Active Substance: QUETIAPINE
     Indication: Major depression
  134. QUETIAPINE [Interacting]
     Active Substance: QUETIAPINE
     Indication: Affective disorder
  135. QUETIAPINE [Interacting]
     Active Substance: QUETIAPINE
     Route: 065
  136. QUETIAPINE [Interacting]
     Active Substance: QUETIAPINE
     Route: 065
  137. QUETIAPINE [Interacting]
     Active Substance: QUETIAPINE
  138. QUETIAPINE [Interacting]
     Active Substance: QUETIAPINE
  139. QUETIAPINE [Interacting]
     Active Substance: QUETIAPINE
     Route: 065
  140. QUETIAPINE [Interacting]
     Active Substance: QUETIAPINE
     Route: 065
  141. QUETIAPINE [Interacting]
     Active Substance: QUETIAPINE
     Dosage: 100 MILLIGRAM, QD (1 EVERY 1 DAYS)
  142. QUETIAPINE [Interacting]
     Active Substance: QUETIAPINE
     Dosage: 100 MILLIGRAM, QD (1 EVERY 1 DAYS)
     Route: 048
  143. QUETIAPINE [Interacting]
     Active Substance: QUETIAPINE
     Dosage: 100 MILLIGRAM, QD (1 EVERY 1 DAYS)
  144. QUETIAPINE [Interacting]
     Active Substance: QUETIAPINE
     Dosage: 100 MILLIGRAM, QD (1 EVERY 1 DAYS)
     Route: 048
  145. DIVALPROEX SODIUM [Interacting]
     Active Substance: DIVALPROEX SODIUM
     Indication: Affective disorder
  146. DIVALPROEX SODIUM [Interacting]
     Active Substance: DIVALPROEX SODIUM
     Indication: Mania
  147. DIVALPROEX SODIUM [Interacting]
     Active Substance: DIVALPROEX SODIUM
     Route: 065
  148. DIVALPROEX SODIUM [Interacting]
     Active Substance: DIVALPROEX SODIUM
     Route: 065
  149. DIVALPROEX SODIUM [Interacting]
     Active Substance: DIVALPROEX SODIUM
     Dosage: 250 MILLIGRAM, QD (1 EVERY 1 DAYS)
  150. DIVALPROEX SODIUM [Interacting]
     Active Substance: DIVALPROEX SODIUM
     Dosage: 250 MILLIGRAM, QD (1 EVERY 1 DAYS)
  151. DIVALPROEX SODIUM [Interacting]
     Active Substance: DIVALPROEX SODIUM
     Dosage: 250 MILLIGRAM, QD (1 EVERY 1 DAYS)
     Route: 048
  152. DIVALPROEX SODIUM [Interacting]
     Active Substance: DIVALPROEX SODIUM
     Dosage: 250 MILLIGRAM, QD (1 EVERY 1 DAYS)
     Route: 048
  153. DIVALPROEX SODIUM [Interacting]
     Active Substance: DIVALPROEX SODIUM
     Dosage: 500 MILLIGRAM, QD (1 EVERY 1 DAYS)
  154. DIVALPROEX SODIUM [Interacting]
     Active Substance: DIVALPROEX SODIUM
     Dosage: 500 MILLIGRAM, QD (1 EVERY 1 DAYS)
     Route: 048
  155. DIVALPROEX SODIUM [Interacting]
     Active Substance: DIVALPROEX SODIUM
     Dosage: 500 MILLIGRAM, QD (1 EVERY 1 DAYS)
     Route: 048
  156. DIVALPROEX SODIUM [Interacting]
     Active Substance: DIVALPROEX SODIUM
     Dosage: 500 MILLIGRAM, QD (1 EVERY 1 DAYS)
  157. DIVALPROEX SODIUM [Interacting]
     Active Substance: DIVALPROEX SODIUM
     Dosage: UNK, QD (1 EVERY 1 DAYS)
     Route: 048
  158. DIVALPROEX SODIUM [Interacting]
     Active Substance: DIVALPROEX SODIUM
     Dosage: UNK, QD (1 EVERY 1 DAYS)
     Route: 048
  159. DIVALPROEX SODIUM [Interacting]
     Active Substance: DIVALPROEX SODIUM
     Dosage: UNK, QD (1 EVERY 1 DAYS)
  160. DIVALPROEX SODIUM [Interacting]
     Active Substance: DIVALPROEX SODIUM
     Dosage: UNK, QD (1 EVERY 1 DAYS)
  161. DIVALPROEX SODIUM [Interacting]
     Active Substance: DIVALPROEX SODIUM
     Route: 048
  162. DIVALPROEX SODIUM [Interacting]
     Active Substance: DIVALPROEX SODIUM
     Route: 048
  163. DIVALPROEX SODIUM [Interacting]
     Active Substance: DIVALPROEX SODIUM
  164. DIVALPROEX SODIUM [Interacting]
     Active Substance: DIVALPROEX SODIUM
  165. DIVALPROEX SODIUM [Interacting]
     Active Substance: DIVALPROEX SODIUM
     Dosage: UNK, QD (1 EVERY 1 DAYS)
  166. DIVALPROEX SODIUM [Interacting]
     Active Substance: DIVALPROEX SODIUM
     Dosage: UNK, QD (1 EVERY 1 DAYS)
     Route: 048
  167. DIVALPROEX SODIUM [Interacting]
     Active Substance: DIVALPROEX SODIUM
     Dosage: UNK, QD (1 EVERY 1 DAYS)
     Route: 048
  168. DIVALPROEX SODIUM [Interacting]
     Active Substance: DIVALPROEX SODIUM
     Dosage: UNK, QD (1 EVERY 1 DAYS)
  169. DIVALPROEX SODIUM [Interacting]
     Active Substance: DIVALPROEX SODIUM
     Dosage: 750 MILLIGRAM, QD (1 EVERY 1 DAYS)
  170. DIVALPROEX SODIUM [Interacting]
     Active Substance: DIVALPROEX SODIUM
     Dosage: 750 MILLIGRAM, QD (1 EVERY 1 DAYS)
  171. DIVALPROEX SODIUM [Interacting]
     Active Substance: DIVALPROEX SODIUM
     Dosage: 750 MILLIGRAM, QD (1 EVERY 1 DAYS)
     Route: 065
  172. DIVALPROEX SODIUM [Interacting]
     Active Substance: DIVALPROEX SODIUM
     Dosage: 750 MILLIGRAM, QD (1 EVERY 1 DAYS)
     Route: 065
  173. FLUOXETINE [Interacting]
     Active Substance: FLUOXETINE HYDROCHLORIDE
     Indication: Major depression
     Dosage: 20 MILLIGRAM, QD (1 EVERY 1 DAYS)
  174. FLUOXETINE [Interacting]
     Active Substance: FLUOXETINE HYDROCHLORIDE
     Dosage: 20 MILLIGRAM, QD (1 EVERY 1 DAYS)
  175. FLUOXETINE [Interacting]
     Active Substance: FLUOXETINE HYDROCHLORIDE
     Dosage: 20 MILLIGRAM, QD (1 EVERY 1 DAYS)
     Route: 048
  176. FLUOXETINE [Interacting]
     Active Substance: FLUOXETINE HYDROCHLORIDE
     Dosage: 20 MILLIGRAM, QD (1 EVERY 1 DAYS)
     Route: 048
  177. FLUOXETINE [Interacting]
     Active Substance: FLUOXETINE HYDROCHLORIDE
     Dosage: 60 MILLIGRAM, QD (1 EVERY 1 DAYS)
  178. FLUOXETINE [Interacting]
     Active Substance: FLUOXETINE HYDROCHLORIDE
     Dosage: 60 MILLIGRAM, QD (1 EVERY 1 DAYS)
  179. FLUOXETINE [Interacting]
     Active Substance: FLUOXETINE HYDROCHLORIDE
     Dosage: 60 MILLIGRAM, QD (1 EVERY 1 DAYS)
     Route: 048
  180. FLUOXETINE [Interacting]
     Active Substance: FLUOXETINE HYDROCHLORIDE
     Dosage: 60 MILLIGRAM, QD (1 EVERY 1 DAYS)
     Route: 048
  181. FLUOXETINE [Interacting]
     Active Substance: FLUOXETINE HYDROCHLORIDE
     Dosage: 80 MILLIGRAM, QD (1 EVERY 1 DAYS)
     Route: 048
  182. FLUOXETINE [Interacting]
     Active Substance: FLUOXETINE HYDROCHLORIDE
     Dosage: 80 MILLIGRAM, QD (1 EVERY 1 DAYS)
  183. FLUOXETINE [Interacting]
     Active Substance: FLUOXETINE HYDROCHLORIDE
     Dosage: 80 MILLIGRAM, QD (1 EVERY 1 DAYS)
  184. FLUOXETINE [Interacting]
     Active Substance: FLUOXETINE HYDROCHLORIDE
     Dosage: 80 MILLIGRAM, QD (1 EVERY 1 DAYS)
     Route: 048
  185. FLUOXETINE [Interacting]
     Active Substance: FLUOXETINE HYDROCHLORIDE
     Dosage: 40 MILLIGRAM, QD (1 EVERY 1 DAYS)
     Route: 048
  186. FLUOXETINE [Interacting]
     Active Substance: FLUOXETINE HYDROCHLORIDE
     Dosage: 40 MILLIGRAM, QD (1 EVERY 1 DAYS)
  187. FLUOXETINE [Interacting]
     Active Substance: FLUOXETINE HYDROCHLORIDE
     Dosage: 40 MILLIGRAM, QD (1 EVERY 1 DAYS)
  188. FLUOXETINE [Interacting]
     Active Substance: FLUOXETINE HYDROCHLORIDE
     Dosage: 40 MILLIGRAM, QD (1 EVERY 1 DAYS)
     Route: 048
  189. FLUOXETINE [Interacting]
     Active Substance: FLUOXETINE HYDROCHLORIDE
     Dosage: 60 MILLIGRAM, QD (1 EVERY 1 DAYS)
     Route: 048
  190. FLUOXETINE [Interacting]
     Active Substance: FLUOXETINE HYDROCHLORIDE
     Dosage: 60 MILLIGRAM, QD (1 EVERY 1 DAYS)
     Route: 048
  191. FLUOXETINE [Interacting]
     Active Substance: FLUOXETINE HYDROCHLORIDE
     Dosage: 60 MILLIGRAM, QD (1 EVERY 1 DAYS)
  192. FLUOXETINE [Interacting]
     Active Substance: FLUOXETINE HYDROCHLORIDE
     Dosage: 60 MILLIGRAM, QD (1 EVERY 1 DAYS)
  193. FLUOXETINE [Interacting]
     Active Substance: FLUOXETINE HYDROCHLORIDE
     Route: 048
  194. FLUOXETINE [Interacting]
     Active Substance: FLUOXETINE HYDROCHLORIDE
  195. FLUOXETINE [Interacting]
     Active Substance: FLUOXETINE HYDROCHLORIDE
  196. FLUOXETINE [Interacting]
     Active Substance: FLUOXETINE HYDROCHLORIDE
     Route: 048
  197. FLUOXETINE [Interacting]
     Active Substance: FLUOXETINE HYDROCHLORIDE
     Dosage: 40 MILLIGRAM, QD (1 EVERY 1 DAYS)
  198. FLUOXETINE [Interacting]
     Active Substance: FLUOXETINE HYDROCHLORIDE
     Dosage: 40 MILLIGRAM, QD (1 EVERY 1 DAYS)
  199. FLUOXETINE [Interacting]
     Active Substance: FLUOXETINE HYDROCHLORIDE
     Dosage: 40 MILLIGRAM, QD (1 EVERY 1 DAYS)
     Route: 048
  200. FLUOXETINE [Interacting]
     Active Substance: FLUOXETINE HYDROCHLORIDE
     Dosage: 40 MILLIGRAM, QD (1 EVERY 1 DAYS)
     Route: 048
  201. FLUOXETINE [Interacting]
     Active Substance: FLUOXETINE HYDROCHLORIDE
     Dosage: 80 MILLIGRAM, QD (1 EVERY 1 DAYS)
  202. FLUOXETINE [Interacting]
     Active Substance: FLUOXETINE HYDROCHLORIDE
     Dosage: 80 MILLIGRAM, QD (1 EVERY 1 DAYS)
     Route: 048
  203. FLUOXETINE [Interacting]
     Active Substance: FLUOXETINE HYDROCHLORIDE
     Dosage: 80 MILLIGRAM, QD (1 EVERY 1 DAYS)
  204. FLUOXETINE [Interacting]
     Active Substance: FLUOXETINE HYDROCHLORIDE
     Dosage: 80 MILLIGRAM, QD (1 EVERY 1 DAYS)
     Route: 048
  205. FLUOXETINE [Interacting]
     Active Substance: FLUOXETINE HYDROCHLORIDE
  206. FLUOXETINE [Interacting]
     Active Substance: FLUOXETINE HYDROCHLORIDE
     Route: 048
  207. FLUOXETINE [Interacting]
     Active Substance: FLUOXETINE HYDROCHLORIDE
     Route: 048
  208. FLUOXETINE [Interacting]
     Active Substance: FLUOXETINE HYDROCHLORIDE
  209. FLUOXETINE [Interacting]
     Active Substance: FLUOXETINE HYDROCHLORIDE
     Route: 048
  210. FLUOXETINE [Interacting]
     Active Substance: FLUOXETINE HYDROCHLORIDE
     Route: 048
  211. FLUOXETINE [Interacting]
     Active Substance: FLUOXETINE HYDROCHLORIDE
  212. FLUOXETINE [Interacting]
     Active Substance: FLUOXETINE HYDROCHLORIDE
  213. FLUOXETINE [Interacting]
     Active Substance: FLUOXETINE HYDROCHLORIDE
  214. FLUOXETINE [Interacting]
     Active Substance: FLUOXETINE HYDROCHLORIDE
     Route: 048
  215. FLUOXETINE [Interacting]
     Active Substance: FLUOXETINE HYDROCHLORIDE
     Route: 048
  216. FLUOXETINE [Interacting]
     Active Substance: FLUOXETINE HYDROCHLORIDE
  217. FLUOXETINE [Interacting]
     Active Substance: FLUOXETINE HYDROCHLORIDE
  218. FLUOXETINE [Interacting]
     Active Substance: FLUOXETINE HYDROCHLORIDE
  219. FLUOXETINE [Interacting]
     Active Substance: FLUOXETINE HYDROCHLORIDE
     Route: 048
  220. FLUOXETINE [Interacting]
     Active Substance: FLUOXETINE HYDROCHLORIDE
     Route: 048
  221. FLUOXETINE HYDROCHLORIDE [Interacting]
     Active Substance: FLUOXETINE HYDROCHLORIDE
     Indication: Major depression
     Route: 048
  222. FLUOXETINE HYDROCHLORIDE [Interacting]
     Active Substance: FLUOXETINE HYDROCHLORIDE
  223. FLUOXETINE HYDROCHLORIDE [Interacting]
     Active Substance: FLUOXETINE HYDROCHLORIDE
  224. FLUOXETINE HYDROCHLORIDE [Interacting]
     Active Substance: FLUOXETINE HYDROCHLORIDE
     Route: 048
  225. FLUOXETINE HYDROCHLORIDE [Interacting]
     Active Substance: FLUOXETINE HYDROCHLORIDE
     Dosage: 60 MILLIGRAM, QD (1 EVERY 1 DAYS)
     Route: 048
  226. FLUOXETINE HYDROCHLORIDE [Interacting]
     Active Substance: FLUOXETINE HYDROCHLORIDE
     Dosage: 60 MILLIGRAM, QD (1 EVERY 1 DAYS)
  227. FLUOXETINE HYDROCHLORIDE [Interacting]
     Active Substance: FLUOXETINE HYDROCHLORIDE
     Dosage: 60 MILLIGRAM, QD (1 EVERY 1 DAYS)
  228. FLUOXETINE HYDROCHLORIDE [Interacting]
     Active Substance: FLUOXETINE HYDROCHLORIDE
     Dosage: 60 MILLIGRAM, QD (1 EVERY 1 DAYS)
     Route: 048
  229. FLUOXETINE HYDROCHLORIDE [Interacting]
     Active Substance: FLUOXETINE HYDROCHLORIDE
     Dosage: 40 MILLIGRAM, QD (1 EVERY 1 DAYS)
  230. FLUOXETINE HYDROCHLORIDE [Interacting]
     Active Substance: FLUOXETINE HYDROCHLORIDE
     Dosage: 40 MILLIGRAM, QD (1 EVERY 1 DAYS)
     Route: 048
  231. FLUOXETINE HYDROCHLORIDE [Interacting]
     Active Substance: FLUOXETINE HYDROCHLORIDE
     Dosage: 40 MILLIGRAM, QD (1 EVERY 1 DAYS)
  232. FLUOXETINE HYDROCHLORIDE [Interacting]
     Active Substance: FLUOXETINE HYDROCHLORIDE
     Dosage: 40 MILLIGRAM, QD (1 EVERY 1 DAYS)
     Route: 048
  233. FLUOXETINE HYDROCHLORIDE [Interacting]
     Active Substance: FLUOXETINE HYDROCHLORIDE
  234. FLUOXETINE HYDROCHLORIDE [Interacting]
     Active Substance: FLUOXETINE HYDROCHLORIDE
  235. FLUOXETINE HYDROCHLORIDE [Interacting]
     Active Substance: FLUOXETINE HYDROCHLORIDE
     Route: 048
  236. FLUOXETINE HYDROCHLORIDE [Interacting]
     Active Substance: FLUOXETINE HYDROCHLORIDE
     Route: 048
  237. FLUOXETINE HYDROCHLORIDE [Interacting]
     Active Substance: FLUOXETINE HYDROCHLORIDE
     Dosage: 20 MILLIGRAM, QD (1 EVERY 1 DAYS
     Route: 048
  238. FLUOXETINE HYDROCHLORIDE [Interacting]
     Active Substance: FLUOXETINE HYDROCHLORIDE
     Dosage: 20 MILLIGRAM, QD (1 EVERY 1 DAYS
     Route: 048
  239. FLUOXETINE HYDROCHLORIDE [Interacting]
     Active Substance: FLUOXETINE HYDROCHLORIDE
     Dosage: 20 MILLIGRAM, QD (1 EVERY 1 DAYS
  240. FLUOXETINE HYDROCHLORIDE [Interacting]
     Active Substance: FLUOXETINE HYDROCHLORIDE
     Dosage: 20 MILLIGRAM, QD (1 EVERY 1 DAYS
  241. FLUOXETINE HYDROCHLORIDE [Interacting]
     Active Substance: FLUOXETINE HYDROCHLORIDE
     Dosage: 80 MILLIGRAM, QD (1 EVERY 1 DAY)
     Route: 048
  242. FLUOXETINE HYDROCHLORIDE [Interacting]
     Active Substance: FLUOXETINE HYDROCHLORIDE
     Dosage: 80 MILLIGRAM, QD (1 EVERY 1 DAY)
  243. FLUOXETINE HYDROCHLORIDE [Interacting]
     Active Substance: FLUOXETINE HYDROCHLORIDE
     Dosage: 80 MILLIGRAM, QD (1 EVERY 1 DAY)
  244. FLUOXETINE HYDROCHLORIDE [Interacting]
     Active Substance: FLUOXETINE HYDROCHLORIDE
     Dosage: 80 MILLIGRAM, QD (1 EVERY 1 DAY)
     Route: 048
  245. FLUOXETINE HYDROCHLORIDE [Interacting]
     Active Substance: FLUOXETINE HYDROCHLORIDE
     Route: 048
  246. FLUOXETINE HYDROCHLORIDE [Interacting]
     Active Substance: FLUOXETINE HYDROCHLORIDE
  247. FLUOXETINE HYDROCHLORIDE [Interacting]
     Active Substance: FLUOXETINE HYDROCHLORIDE
  248. FLUOXETINE HYDROCHLORIDE [Interacting]
     Active Substance: FLUOXETINE HYDROCHLORIDE
     Route: 048
  249. FLUOXETINE HYDROCHLORIDE [Interacting]
     Active Substance: FLUOXETINE HYDROCHLORIDE
     Dosage: 80 MILLIGRAM, QD (1 EVERY 1 DAYS)
     Route: 065
  250. FLUOXETINE HYDROCHLORIDE [Interacting]
     Active Substance: FLUOXETINE HYDROCHLORIDE
     Dosage: 80 MILLIGRAM, QD (1 EVERY 1 DAYS)
     Route: 065
  251. FLUOXETINE HYDROCHLORIDE [Interacting]
     Active Substance: FLUOXETINE HYDROCHLORIDE
     Dosage: 80 MILLIGRAM, QD (1 EVERY 1 DAYS)
  252. FLUOXETINE HYDROCHLORIDE [Interacting]
     Active Substance: FLUOXETINE HYDROCHLORIDE
     Dosage: 80 MILLIGRAM, QD (1 EVERY 1 DAYS)
  253. DEPAKOTE [Interacting]
     Active Substance: DIVALPROEX SODIUM
     Indication: Mania
     Dosage: 750 MILLIGRAM, QD (1 EVERY 1 DAYS)
  254. DEPAKOTE [Interacting]
     Active Substance: DIVALPROEX SODIUM
     Indication: Affective disorder
     Dosage: 750 MILLIGRAM, QD (1 EVERY 1 DAYS)
  255. DEPAKOTE [Interacting]
     Active Substance: DIVALPROEX SODIUM
     Dosage: 750 MILLIGRAM, QD (1 EVERY 1 DAYS)
     Route: 048
  256. DEPAKOTE [Interacting]
     Active Substance: DIVALPROEX SODIUM
     Dosage: 750 MILLIGRAM, QD (1 EVERY 1 DAYS)
     Route: 048
  257. DEPAKOTE [Interacting]
     Active Substance: DIVALPROEX SODIUM
     Dosage: 250 MILLIGRAM, QD (1 EVERY 1 DAYS)
  258. DEPAKOTE [Interacting]
     Active Substance: DIVALPROEX SODIUM
     Dosage: 250 MILLIGRAM, QD (1 EVERY 1 DAYS)
  259. DEPAKOTE [Interacting]
     Active Substance: DIVALPROEX SODIUM
     Dosage: 250 MILLIGRAM, QD (1 EVERY 1 DAYS)
     Route: 048
  260. DEPAKOTE [Interacting]
     Active Substance: DIVALPROEX SODIUM
     Dosage: 250 MILLIGRAM, QD (1 EVERY 1 DAYS)
     Route: 048
  261. DEPAKOTE [Interacting]
     Active Substance: DIVALPROEX SODIUM
     Dosage: 500 MILLIGRAM, QD (1 EVERY 1 DAYS)
  262. DEPAKOTE [Interacting]
     Active Substance: DIVALPROEX SODIUM
     Dosage: 500 MILLIGRAM, QD (1 EVERY 1 DAYS)
     Route: 048
  263. DEPAKOTE [Interacting]
     Active Substance: DIVALPROEX SODIUM
     Dosage: 500 MILLIGRAM, QD (1 EVERY 1 DAYS)
  264. DEPAKOTE [Interacting]
     Active Substance: DIVALPROEX SODIUM
     Dosage: 500 MILLIGRAM, QD (1 EVERY 1 DAYS)
     Route: 048
  265. LORAZEPAM [Interacting]
     Active Substance: LORAZEPAM
     Indication: Withdrawal syndrome
     Dosage: UNK, QD (1 EVERY 24 HOURS)
     Route: 048
  266. LORAZEPAM [Interacting]
     Active Substance: LORAZEPAM
     Indication: Anxiety
     Dosage: UNK, QD (1 EVERY 24 HOURS)
  267. LORAZEPAM [Interacting]
     Active Substance: LORAZEPAM
     Indication: Drug withdrawal syndrome
     Dosage: UNK, QD (1 EVERY 24 HOURS)
  268. LORAZEPAM [Interacting]
     Active Substance: LORAZEPAM
     Indication: Affective disorder
     Dosage: UNK, QD (1 EVERY 24 HOURS)
     Route: 048
  269. LORAZEPAM [Interacting]
     Active Substance: LORAZEPAM
     Dosage: 2 MILLIGRAM, QID (4 EVERY 1 DAYS)
     Route: 048
  270. LORAZEPAM [Interacting]
     Active Substance: LORAZEPAM
     Dosage: 2 MILLIGRAM, QID (4 EVERY 1 DAYS)
  271. LORAZEPAM [Interacting]
     Active Substance: LORAZEPAM
     Dosage: 2 MILLIGRAM, QID (4 EVERY 1 DAYS)
  272. LORAZEPAM [Interacting]
     Active Substance: LORAZEPAM
     Dosage: 2 MILLIGRAM, QID (4 EVERY 1 DAYS)
     Route: 048
  273. LORAZEPAM [Interacting]
     Active Substance: LORAZEPAM
  274. LORAZEPAM [Interacting]
     Active Substance: LORAZEPAM
     Route: 048
  275. LORAZEPAM [Interacting]
     Active Substance: LORAZEPAM
     Route: 048
  276. LORAZEPAM [Interacting]
     Active Substance: LORAZEPAM
  277. LORAZEPAM [Interacting]
     Active Substance: LORAZEPAM
  278. LORAZEPAM [Interacting]
     Active Substance: LORAZEPAM
     Route: 048
  279. LORAZEPAM [Interacting]
     Active Substance: LORAZEPAM
     Route: 048
  280. LORAZEPAM [Interacting]
     Active Substance: LORAZEPAM
  281. LORAZEPAM [Interacting]
     Active Substance: LORAZEPAM
     Dosage: UNK, QID (4 EVERY 1 DAYS)
     Route: 048
  282. LORAZEPAM [Interacting]
     Active Substance: LORAZEPAM
     Dosage: UNK, QID (4 EVERY 1 DAYS)
     Route: 048
  283. LORAZEPAM [Interacting]
     Active Substance: LORAZEPAM
     Dosage: UNK, QID (4 EVERY 1 DAYS)
  284. LORAZEPAM [Interacting]
     Active Substance: LORAZEPAM
     Dosage: UNK, QID (4 EVERY 1 DAYS)
  285. LORAZEPAM [Interacting]
     Active Substance: LORAZEPAM
     Route: 065
  286. LORAZEPAM [Interacting]
     Active Substance: LORAZEPAM
     Route: 065
  287. LORAZEPAM [Interacting]
     Active Substance: LORAZEPAM
  288. LORAZEPAM [Interacting]
     Active Substance: LORAZEPAM
  289. LORAZEPAM [Interacting]
     Active Substance: LORAZEPAM
  290. LORAZEPAM [Interacting]
     Active Substance: LORAZEPAM
  291. LORAZEPAM [Interacting]
     Active Substance: LORAZEPAM
     Route: 048
  292. LORAZEPAM [Interacting]
     Active Substance: LORAZEPAM
     Route: 048
  293. LORAZEPAM [Interacting]
     Active Substance: LORAZEPAM
     Route: 048
  294. LORAZEPAM [Interacting]
     Active Substance: LORAZEPAM
     Route: 048
  295. LORAZEPAM [Interacting]
     Active Substance: LORAZEPAM
  296. LORAZEPAM [Interacting]
     Active Substance: LORAZEPAM
  297. LORAZEPAM [Interacting]
     Active Substance: LORAZEPAM
     Route: 030
  298. LORAZEPAM [Interacting]
     Active Substance: LORAZEPAM
     Route: 030
  299. LORAZEPAM [Interacting]
     Active Substance: LORAZEPAM
  300. LORAZEPAM [Interacting]
     Active Substance: LORAZEPAM
  301. LORAZEPAM [Interacting]
     Active Substance: LORAZEPAM
  302. LORAZEPAM [Interacting]
     Active Substance: LORAZEPAM
  303. LORAZEPAM [Interacting]
     Active Substance: LORAZEPAM
     Route: 048
  304. LORAZEPAM [Interacting]
     Active Substance: LORAZEPAM
     Route: 048
  305. LORAZEPAM [Interacting]
     Active Substance: LORAZEPAM
     Route: 048
  306. LORAZEPAM [Interacting]
     Active Substance: LORAZEPAM
     Route: 048
  307. LORAZEPAM [Interacting]
     Active Substance: LORAZEPAM
  308. LORAZEPAM [Interacting]
     Active Substance: LORAZEPAM
  309. LORAZEPAM [Interacting]
     Active Substance: LORAZEPAM
     Route: 048
  310. LORAZEPAM [Interacting]
     Active Substance: LORAZEPAM
     Route: 048
  311. LORAZEPAM [Interacting]
     Active Substance: LORAZEPAM
  312. LORAZEPAM [Interacting]
     Active Substance: LORAZEPAM
  313. LORAZEPAM [Interacting]
     Active Substance: LORAZEPAM
     Dosage: 1 MILLIGRAM, QD (1 EVERY 24 HOURS)
  314. LORAZEPAM [Interacting]
     Active Substance: LORAZEPAM
     Dosage: 1 MILLIGRAM, QD (1 EVERY 24 HOURS)
  315. LORAZEPAM [Interacting]
     Active Substance: LORAZEPAM
     Dosage: 1 MILLIGRAM, QD (1 EVERY 24 HOURS)
     Route: 030
  316. LORAZEPAM [Interacting]
     Active Substance: LORAZEPAM
     Dosage: 1 MILLIGRAM, QD (1 EVERY 24 HOURS)
     Route: 030
  317. LORAZEPAM [Interacting]
     Active Substance: LORAZEPAM
  318. LORAZEPAM [Interacting]
     Active Substance: LORAZEPAM
  319. LORAZEPAM [Interacting]
     Active Substance: LORAZEPAM
     Route: 065
  320. LORAZEPAM [Interacting]
     Active Substance: LORAZEPAM
     Route: 065
  321. LORAZEPAM [Interacting]
     Active Substance: LORAZEPAM
  322. LORAZEPAM [Interacting]
     Active Substance: LORAZEPAM
  323. LORAZEPAM [Interacting]
     Active Substance: LORAZEPAM
     Route: 065
  324. LORAZEPAM [Interacting]
     Active Substance: LORAZEPAM
     Route: 065
  325. LORAZEPAM [Interacting]
     Active Substance: LORAZEPAM
  326. LORAZEPAM [Interacting]
     Active Substance: LORAZEPAM
  327. LORAZEPAM [Interacting]
     Active Substance: LORAZEPAM
     Route: 065
  328. LORAZEPAM [Interacting]
     Active Substance: LORAZEPAM
     Route: 065
  329. LORAZEPAM [Interacting]
     Active Substance: LORAZEPAM
  330. LORAZEPAM [Interacting]
     Active Substance: LORAZEPAM
  331. LORAZEPAM [Interacting]
     Active Substance: LORAZEPAM
     Route: 065
  332. LORAZEPAM [Interacting]
     Active Substance: LORAZEPAM
     Route: 065
  333. LORAZEPAM [Interacting]
     Active Substance: LORAZEPAM
     Dosage: 1 MILLIGRAM, QD (1 EVERY 1 DAYS)
  334. LORAZEPAM [Interacting]
     Active Substance: LORAZEPAM
     Dosage: 1 MILLIGRAM, QD (1 EVERY 1 DAYS)
  335. LORAZEPAM [Interacting]
     Active Substance: LORAZEPAM
     Dosage: 1 MILLIGRAM, QD (1 EVERY 1 DAYS)
     Route: 030
  336. LORAZEPAM [Interacting]
     Active Substance: LORAZEPAM
     Dosage: 1 MILLIGRAM, QD (1 EVERY 1 DAYS)
     Route: 030
  337. LORAZEPAM [Interacting]
     Active Substance: LORAZEPAM
  338. LORAZEPAM [Interacting]
     Active Substance: LORAZEPAM
  339. LORAZEPAM [Interacting]
     Active Substance: LORAZEPAM
     Route: 048
  340. LORAZEPAM [Interacting]
     Active Substance: LORAZEPAM
     Route: 048
  341. LORAZEPAM [Interacting]
     Active Substance: LORAZEPAM
  342. LORAZEPAM [Interacting]
     Active Substance: LORAZEPAM
  343. LORAZEPAM [Interacting]
     Active Substance: LORAZEPAM
     Route: 065
  344. LORAZEPAM [Interacting]
     Active Substance: LORAZEPAM
     Route: 065
  345. LORAZEPAM [Interacting]
     Active Substance: LORAZEPAM
  346. LORAZEPAM [Interacting]
     Active Substance: LORAZEPAM
  347. LORAZEPAM [Interacting]
     Active Substance: LORAZEPAM
     Route: 048
  348. LORAZEPAM [Interacting]
     Active Substance: LORAZEPAM
     Route: 048
  349. LORAZEPAM [Interacting]
     Active Substance: LORAZEPAM
  350. LORAZEPAM [Interacting]
     Active Substance: LORAZEPAM
  351. LORAZEPAM [Interacting]
     Active Substance: LORAZEPAM
     Route: 030
  352. LORAZEPAM [Interacting]
     Active Substance: LORAZEPAM
     Route: 030
  353. LORAZEPAM [Interacting]
     Active Substance: LORAZEPAM
  354. LORAZEPAM [Interacting]
     Active Substance: LORAZEPAM
  355. LORAZEPAM [Interacting]
     Active Substance: LORAZEPAM
     Route: 048
  356. LORAZEPAM [Interacting]
     Active Substance: LORAZEPAM
     Route: 048
  357. LORAZEPAM [Interacting]
     Active Substance: LORAZEPAM
  358. LORAZEPAM [Interacting]
     Active Substance: LORAZEPAM
  359. LORAZEPAM [Interacting]
     Active Substance: LORAZEPAM
     Route: 065
  360. LORAZEPAM [Interacting]
     Active Substance: LORAZEPAM
     Route: 065
  361. LORAZEPAM [Interacting]
     Active Substance: LORAZEPAM
  362. LORAZEPAM [Interacting]
     Active Substance: LORAZEPAM
  363. LORAZEPAM [Interacting]
     Active Substance: LORAZEPAM
     Route: 065
  364. LORAZEPAM [Interacting]
     Active Substance: LORAZEPAM
     Route: 065
  365. LORAZEPAM [Interacting]
     Active Substance: LORAZEPAM
  366. LORAZEPAM [Interacting]
     Active Substance: LORAZEPAM
  367. LORAZEPAM [Interacting]
     Active Substance: LORAZEPAM
     Route: 065
  368. LORAZEPAM [Interacting]
     Active Substance: LORAZEPAM
     Route: 065
  369. LORAZEPAM [Interacting]
     Active Substance: LORAZEPAM
  370. LORAZEPAM [Interacting]
     Active Substance: LORAZEPAM
  371. LORAZEPAM [Interacting]
     Active Substance: LORAZEPAM
     Route: 065
  372. LORAZEPAM [Interacting]
     Active Substance: LORAZEPAM
     Route: 065
  373. LORAZEPAM [Interacting]
     Active Substance: LORAZEPAM
  374. LORAZEPAM [Interacting]
     Active Substance: LORAZEPAM
  375. LORAZEPAM [Interacting]
     Active Substance: LORAZEPAM
     Route: 065
  376. LORAZEPAM [Interacting]
     Active Substance: LORAZEPAM
     Route: 065
  377. LORAZEPAM [Interacting]
     Active Substance: LORAZEPAM
  378. LORAZEPAM [Interacting]
     Active Substance: LORAZEPAM
  379. LORAZEPAM [Interacting]
     Active Substance: LORAZEPAM
     Route: 065
  380. LORAZEPAM [Interacting]
     Active Substance: LORAZEPAM
     Route: 065
  381. LORAZEPAM [Interacting]
     Active Substance: LORAZEPAM
  382. LORAZEPAM [Interacting]
     Active Substance: LORAZEPAM
  383. LORAZEPAM [Interacting]
     Active Substance: LORAZEPAM
     Route: 030
  384. LORAZEPAM [Interacting]
     Active Substance: LORAZEPAM
     Route: 030
  385. LORAZEPAM [Interacting]
     Active Substance: LORAZEPAM
     Dosage: 2 MILLIGRAM, QID (4 EVERY 1 DAYS)
  386. LORAZEPAM [Interacting]
     Active Substance: LORAZEPAM
     Dosage: 2 MILLIGRAM, QID (4 EVERY 1 DAYS)
  387. LORAZEPAM [Interacting]
     Active Substance: LORAZEPAM
     Dosage: 2 MILLIGRAM, QID (4 EVERY 1 DAYS)
     Route: 048
  388. LORAZEPAM [Interacting]
     Active Substance: LORAZEPAM
     Dosage: 2 MILLIGRAM, QID (4 EVERY 1 DAYS)
     Route: 048
  389. LORAZEPAM [Interacting]
     Active Substance: LORAZEPAM
     Dosage: 1 MILLIGRAM, QD (1 EVERY 1 DAYS)
  390. LORAZEPAM [Interacting]
     Active Substance: LORAZEPAM
     Dosage: 1 MILLIGRAM, QD (1 EVERY 1 DAYS)
  391. LORAZEPAM [Interacting]
     Active Substance: LORAZEPAM
     Dosage: 1 MILLIGRAM, QD (1 EVERY 1 DAYS)
     Route: 048
  392. LORAZEPAM [Interacting]
     Active Substance: LORAZEPAM
     Dosage: 1 MILLIGRAM, QD (1 EVERY 1 DAYS)
     Route: 048
  393. METHADONE [Interacting]
     Active Substance: METHADONE HYDROCHLORIDE
     Indication: Drug use disorder
     Dosage: 60 MILLIGRAM, QD (1 EVERY 24 HOURS)
  394. METHADONE [Interacting]
     Active Substance: METHADONE HYDROCHLORIDE
     Dosage: 60 MILLIGRAM, QD (1 EVERY 24 HOURS)
     Route: 065
  395. METHADONE [Interacting]
     Active Substance: METHADONE HYDROCHLORIDE
     Dosage: 60 MILLIGRAM, QD (1 EVERY 24 HOURS)
  396. METHADONE [Interacting]
     Active Substance: METHADONE HYDROCHLORIDE
     Dosage: 60 MILLIGRAM, QD (1 EVERY 24 HOURS)
     Route: 065
  397. METHADONE [Interacting]
     Active Substance: METHADONE HYDROCHLORIDE
     Dosage: 75 MILLIGRAM, QD (1 EVERY 1 DAYS)
  398. METHADONE [Interacting]
     Active Substance: METHADONE HYDROCHLORIDE
     Dosage: 75 MILLIGRAM, QD (1 EVERY 1 DAYS)
  399. METHADONE [Interacting]
     Active Substance: METHADONE HYDROCHLORIDE
     Dosage: 75 MILLIGRAM, QD (1 EVERY 1 DAYS)
     Route: 048
  400. METHADONE [Interacting]
     Active Substance: METHADONE HYDROCHLORIDE
     Dosage: 75 MILLIGRAM, QD (1 EVERY 1 DAYS)
     Route: 048
  401. METHADONE [Interacting]
     Active Substance: METHADONE HYDROCHLORIDE
     Dosage: 40 MILLIGRAM, QD (1 EVERY 24 HOURS)
     Route: 065
  402. METHADONE [Interacting]
     Active Substance: METHADONE HYDROCHLORIDE
     Dosage: 40 MILLIGRAM, QD (1 EVERY 24 HOURS)
  403. METHADONE [Interacting]
     Active Substance: METHADONE HYDROCHLORIDE
     Dosage: 40 MILLIGRAM, QD (1 EVERY 24 HOURS)
  404. METHADONE [Interacting]
     Active Substance: METHADONE HYDROCHLORIDE
     Dosage: 40 MILLIGRAM, QD (1 EVERY 24 HOURS)
     Route: 065
  405. METHADONE [Interacting]
     Active Substance: METHADONE HYDROCHLORIDE
     Dosage: 50 MILLIGRAM, QD (1 EVERY 24 HOURS)
     Route: 065
  406. METHADONE [Interacting]
     Active Substance: METHADONE HYDROCHLORIDE
     Dosage: 50 MILLIGRAM, QD (1 EVERY 24 HOURS)
  407. METHADONE [Interacting]
     Active Substance: METHADONE HYDROCHLORIDE
     Dosage: 50 MILLIGRAM, QD (1 EVERY 24 HOURS)
  408. METHADONE [Interacting]
     Active Substance: METHADONE HYDROCHLORIDE
     Dosage: 50 MILLIGRAM, QD (1 EVERY 24 HOURS)
     Route: 065
  409. METHADONE [Interacting]
     Active Substance: METHADONE HYDROCHLORIDE
     Dosage: 60 MILLIGRAM, QD (1 EVERY 1 DAY)
  410. METHADONE [Interacting]
     Active Substance: METHADONE HYDROCHLORIDE
     Dosage: 60 MILLIGRAM, QD (1 EVERY 1 DAY)
     Route: 048
  411. METHADONE [Interacting]
     Active Substance: METHADONE HYDROCHLORIDE
     Dosage: 60 MILLIGRAM, QD (1 EVERY 1 DAY)
  412. METHADONE [Interacting]
     Active Substance: METHADONE HYDROCHLORIDE
     Dosage: 60 MILLIGRAM, QD (1 EVERY 1 DAY)
     Route: 048
  413. METHADONE [Interacting]
     Active Substance: METHADONE HYDROCHLORIDE
     Dosage: 30 MILLIGRAM, QD (1 EVERY 24 HOURS)
     Route: 065
  414. METHADONE [Interacting]
     Active Substance: METHADONE HYDROCHLORIDE
     Dosage: 30 MILLIGRAM, QD (1 EVERY 24 HOURS)
     Route: 065
  415. METHADONE [Interacting]
     Active Substance: METHADONE HYDROCHLORIDE
     Dosage: 30 MILLIGRAM, QD (1 EVERY 24 HOURS)
  416. METHADONE [Interacting]
     Active Substance: METHADONE HYDROCHLORIDE
     Dosage: 30 MILLIGRAM, QD (1 EVERY 24 HOURS)
  417. METHADONE [Interacting]
     Active Substance: METHADONE HYDROCHLORIDE
     Dosage: 75 MILLIGRAM, QD (1 EVERY 1 DAYS)
     Route: 048
  418. METHADONE [Interacting]
     Active Substance: METHADONE HYDROCHLORIDE
     Dosage: 75 MILLIGRAM, QD (1 EVERY 1 DAYS)
     Route: 048
  419. METHADONE [Interacting]
     Active Substance: METHADONE HYDROCHLORIDE
     Dosage: 75 MILLIGRAM, QD (1 EVERY 1 DAYS)
  420. METHADONE [Interacting]
     Active Substance: METHADONE HYDROCHLORIDE
     Dosage: 75 MILLIGRAM, QD (1 EVERY 1 DAYS)
  421. METHADONE [Interacting]
     Active Substance: METHADONE HYDROCHLORIDE
     Dosage: 60 MILLIGRAM, QD (1 EVERY 1 DAYS)
  422. METHADONE [Interacting]
     Active Substance: METHADONE HYDROCHLORIDE
     Dosage: 60 MILLIGRAM, QD (1 EVERY 1 DAYS)
  423. METHADONE [Interacting]
     Active Substance: METHADONE HYDROCHLORIDE
     Dosage: 60 MILLIGRAM, QD (1 EVERY 1 DAYS)
     Route: 048
  424. METHADONE [Interacting]
     Active Substance: METHADONE HYDROCHLORIDE
     Dosage: 60 MILLIGRAM, QD (1 EVERY 1 DAYS)
     Route: 048
  425. METHADONE [Interacting]
     Active Substance: METHADONE HYDROCHLORIDE
     Route: 048
  426. METHADONE [Interacting]
     Active Substance: METHADONE HYDROCHLORIDE
     Route: 048
  427. METHADONE [Interacting]
     Active Substance: METHADONE HYDROCHLORIDE
  428. METHADONE [Interacting]
     Active Substance: METHADONE HYDROCHLORIDE
  429. METHADONE [Interacting]
     Active Substance: METHADONE HYDROCHLORIDE
     Route: 048
  430. METHADONE [Interacting]
     Active Substance: METHADONE HYDROCHLORIDE
     Route: 048
  431. METHADONE [Interacting]
     Active Substance: METHADONE HYDROCHLORIDE
  432. METHADONE [Interacting]
     Active Substance: METHADONE HYDROCHLORIDE
  433. METHADONE [Interacting]
     Active Substance: METHADONE HYDROCHLORIDE
     Dosage: 50 MILLIGRAM, QD (1 EVERY 1 DAYS)
  434. METHADONE [Interacting]
     Active Substance: METHADONE HYDROCHLORIDE
     Dosage: 50 MILLIGRAM, QD (1 EVERY 1 DAYS)
     Route: 048
  435. METHADONE [Interacting]
     Active Substance: METHADONE HYDROCHLORIDE
     Dosage: 50 MILLIGRAM, QD (1 EVERY 1 DAYS)
  436. METHADONE [Interacting]
     Active Substance: METHADONE HYDROCHLORIDE
     Dosage: 50 MILLIGRAM, QD (1 EVERY 1 DAYS)
     Route: 048
  437. METHADONE [Interacting]
     Active Substance: METHADONE HYDROCHLORIDE
     Dosage: 75 MILLIGRAM, QD (1 EVERY 1 DAYS)
     Route: 048
  438. METHADONE [Interacting]
     Active Substance: METHADONE HYDROCHLORIDE
     Dosage: 75 MILLIGRAM, QD (1 EVERY 1 DAYS)
     Route: 048
  439. METHADONE [Interacting]
     Active Substance: METHADONE HYDROCHLORIDE
     Dosage: 75 MILLIGRAM, QD (1 EVERY 1 DAYS)
  440. METHADONE [Interacting]
     Active Substance: METHADONE HYDROCHLORIDE
     Dosage: 75 MILLIGRAM, QD (1 EVERY 1 DAYS)
  441. METHADONE [Interacting]
     Active Substance: METHADONE HYDROCHLORIDE
     Dosage: 40 MILLIGRAM, QD (1 EVERY 24 HOURS)
     Route: 065
  442. METHADONE [Interacting]
     Active Substance: METHADONE HYDROCHLORIDE
     Dosage: 40 MILLIGRAM, QD (1 EVERY 24 HOURS)
     Route: 065
  443. METHADONE [Interacting]
     Active Substance: METHADONE HYDROCHLORIDE
     Dosage: 40 MILLIGRAM, QD (1 EVERY 24 HOURS)
  444. METHADONE [Interacting]
     Active Substance: METHADONE HYDROCHLORIDE
     Dosage: 40 MILLIGRAM, QD (1 EVERY 24 HOURS)
  445. METHADONE [Interacting]
     Active Substance: METHADONE HYDROCHLORIDE
     Route: 065
  446. METHADONE [Interacting]
     Active Substance: METHADONE HYDROCHLORIDE
  447. METHADONE [Interacting]
     Active Substance: METHADONE HYDROCHLORIDE
  448. METHADONE [Interacting]
     Active Substance: METHADONE HYDROCHLORIDE
     Route: 065
  449. METHADONE [Interacting]
     Active Substance: METHADONE HYDROCHLORIDE
  450. METHADONE [Interacting]
     Active Substance: METHADONE HYDROCHLORIDE
     Route: 065
  451. METHADONE [Interacting]
     Active Substance: METHADONE HYDROCHLORIDE
     Route: 065
  452. METHADONE [Interacting]
     Active Substance: METHADONE HYDROCHLORIDE
  453. METHADONE [Interacting]
     Active Substance: METHADONE HYDROCHLORIDE
  454. METHADONE [Interacting]
     Active Substance: METHADONE HYDROCHLORIDE
  455. METHADONE [Interacting]
     Active Substance: METHADONE HYDROCHLORIDE
     Route: 065
  456. METHADONE [Interacting]
     Active Substance: METHADONE HYDROCHLORIDE
     Route: 065
  457. QUETIAPINE FUMARATE [Interacting]
     Active Substance: QUETIAPINE FUMARATE
     Indication: Major depression
     Route: 065
  458. QUETIAPINE FUMARATE [Interacting]
     Active Substance: QUETIAPINE FUMARATE
     Indication: Affective disorder
  459. QUETIAPINE FUMARATE [Interacting]
     Active Substance: QUETIAPINE FUMARATE
  460. QUETIAPINE FUMARATE [Interacting]
     Active Substance: QUETIAPINE FUMARATE
     Route: 065
  461. QUETIAPINE FUMARATE [Interacting]
     Active Substance: QUETIAPINE FUMARATE
     Route: 048
  462. QUETIAPINE FUMARATE [Interacting]
     Active Substance: QUETIAPINE FUMARATE
     Route: 048
  463. QUETIAPINE FUMARATE [Interacting]
     Active Substance: QUETIAPINE FUMARATE
  464. QUETIAPINE FUMARATE [Interacting]
     Active Substance: QUETIAPINE FUMARATE
  465. QUETIAPINE FUMARATE [Interacting]
     Active Substance: QUETIAPINE FUMARATE
  466. QUETIAPINE FUMARATE [Interacting]
     Active Substance: QUETIAPINE FUMARATE
     Route: 048
  467. QUETIAPINE FUMARATE [Interacting]
     Active Substance: QUETIAPINE FUMARATE
     Route: 048
  468. QUETIAPINE FUMARATE [Interacting]
     Active Substance: QUETIAPINE FUMARATE
  469. QUETIAPINE FUMARATE [Interacting]
     Active Substance: QUETIAPINE FUMARATE
     Dosage: 100 MILLIGRAM, QD (1 EVERY 1 DAYS)
     Route: 048
  470. QUETIAPINE FUMARATE [Interacting]
     Active Substance: QUETIAPINE FUMARATE
     Dosage: 100 MILLIGRAM, QD (1 EVERY 1 DAYS)
     Route: 048
  471. QUETIAPINE FUMARATE [Interacting]
     Active Substance: QUETIAPINE FUMARATE
     Dosage: 100 MILLIGRAM, QD (1 EVERY 1 DAYS)
  472. QUETIAPINE FUMARATE [Interacting]
     Active Substance: QUETIAPINE FUMARATE
     Dosage: 100 MILLIGRAM, QD (1 EVERY 1 DAYS)
  473. QUETIAPINE FUMARATE [Interacting]
     Active Substance: QUETIAPINE FUMARATE
     Dosage: 50 MILLIGRAM, QID (4 EVERY 1 DAYS)
  474. QUETIAPINE FUMARATE [Interacting]
     Active Substance: QUETIAPINE FUMARATE
     Dosage: 50 MILLIGRAM, QID (4 EVERY 1 DAYS)
  475. QUETIAPINE FUMARATE [Interacting]
     Active Substance: QUETIAPINE FUMARATE
     Dosage: 50 MILLIGRAM, QID (4 EVERY 1 DAYS)
     Route: 048
  476. QUETIAPINE FUMARATE [Interacting]
     Active Substance: QUETIAPINE FUMARATE
     Dosage: 50 MILLIGRAM, QID (4 EVERY 1 DAYS)
     Route: 048
  477. QUETIAPINE FUMARATE [Interacting]
     Active Substance: QUETIAPINE FUMARATE
     Dosage: UNK, QID (4 EVERY 1 DAYS)
     Route: 065
  478. QUETIAPINE FUMARATE [Interacting]
     Active Substance: QUETIAPINE FUMARATE
     Dosage: UNK, QID (4 EVERY 1 DAYS)
     Route: 065
  479. QUETIAPINE FUMARATE [Interacting]
     Active Substance: QUETIAPINE FUMARATE
     Dosage: UNK, QID (4 EVERY 1 DAYS)
  480. QUETIAPINE FUMARATE [Interacting]
     Active Substance: QUETIAPINE FUMARATE
     Dosage: UNK, QID (4 EVERY 1 DAYS)
  481. RISPERDAL [Interacting]
     Active Substance: RISPERIDONE
     Indication: Affective disorder
     Dosage: 1 MILLIGRAM, QD (1 EVERY 1 DAYS)
     Route: 048
  482. RISPERDAL [Interacting]
     Active Substance: RISPERIDONE
     Dosage: 1 MILLIGRAM, QD (1 EVERY 1 DAYS)
  483. RISPERDAL [Interacting]
     Active Substance: RISPERIDONE
     Dosage: 1 MILLIGRAM, QD (1 EVERY 1 DAYS)
  484. RISPERDAL [Interacting]
     Active Substance: RISPERIDONE
     Dosage: 1 MILLIGRAM, QD (1 EVERY 1 DAYS)
     Route: 048
  485. RISPERDAL [Interacting]
     Active Substance: RISPERIDONE
     Dosage: 0.25 MILLIGRAM, QD (1 EVERY 1 DAYS)
     Route: 048
  486. RISPERDAL [Interacting]
     Active Substance: RISPERIDONE
     Dosage: 0.25 MILLIGRAM, QD (1 EVERY 1 DAYS)
  487. RISPERDAL [Interacting]
     Active Substance: RISPERIDONE
     Dosage: 0.25 MILLIGRAM, QD (1 EVERY 1 DAYS)
  488. RISPERDAL [Interacting]
     Active Substance: RISPERIDONE
     Dosage: 0.25 MILLIGRAM, QD (1 EVERY 1 DAYS)
     Route: 048
  489. RISPERIDONE [Interacting]
     Active Substance: RISPERIDONE
     Indication: Affective disorder
     Dosage: 1 MILLIGRAM, QD (1 EVERY 24 HOURS)
  490. RISPERIDONE [Interacting]
     Active Substance: RISPERIDONE
     Dosage: 1 MILLIGRAM, QD (1 EVERY 24 HOURS)
  491. RISPERIDONE [Interacting]
     Active Substance: RISPERIDONE
     Dosage: 1 MILLIGRAM, QD (1 EVERY 24 HOURS)
     Route: 048
  492. RISPERIDONE [Interacting]
     Active Substance: RISPERIDONE
     Dosage: 1 MILLIGRAM, QD (1 EVERY 24 HOURS)
     Route: 048
  493. RISPERIDONE [Interacting]
     Active Substance: RISPERIDONE
     Dosage: 0.25 MILLIGRAM, QD (1 EVERY 1 DAYS)
  494. RISPERIDONE [Interacting]
     Active Substance: RISPERIDONE
     Dosage: 0.25 MILLIGRAM, QD (1 EVERY 1 DAYS)
  495. RISPERIDONE [Interacting]
     Active Substance: RISPERIDONE
     Dosage: 0.25 MILLIGRAM, QD (1 EVERY 1 DAYS)
     Route: 048
  496. RISPERIDONE [Interacting]
     Active Substance: RISPERIDONE
     Dosage: 0.25 MILLIGRAM, QD (1 EVERY 1 DAYS)
     Route: 048
  497. DOXEPIN HYDROCHLORIDE [Interacting]
     Active Substance: DOXEPIN HYDROCHLORIDE
     Indication: Major depression
     Dosage: 100 MILLIGRAM, QD (1 EVERY 24 HOURS)
  498. DOXEPIN HYDROCHLORIDE [Interacting]
     Active Substance: DOXEPIN HYDROCHLORIDE
     Dosage: 100 MILLIGRAM, QD (1 EVERY 24 HOURS)
     Route: 048
  499. DOXEPIN HYDROCHLORIDE [Interacting]
     Active Substance: DOXEPIN HYDROCHLORIDE
     Dosage: 100 MILLIGRAM, QD (1 EVERY 24 HOURS)
     Route: 048
  500. DOXEPIN HYDROCHLORIDE [Interacting]
     Active Substance: DOXEPIN HYDROCHLORIDE
     Dosage: 100 MILLIGRAM, QD (1 EVERY 24 HOURS)
  501. DOXEPIN HYDROCHLORIDE [Interacting]
     Active Substance: DOXEPIN HYDROCHLORIDE
  502. DOXEPIN HYDROCHLORIDE [Interacting]
     Active Substance: DOXEPIN HYDROCHLORIDE
     Route: 065
  503. DOXEPIN HYDROCHLORIDE [Interacting]
     Active Substance: DOXEPIN HYDROCHLORIDE
  504. DOXEPIN HYDROCHLORIDE [Interacting]
     Active Substance: DOXEPIN HYDROCHLORIDE
     Route: 065
  505. DOXEPIN HYDROCHLORIDE [Interacting]
     Active Substance: DOXEPIN HYDROCHLORIDE
     Dosage: 50 MILLIGRAM, QD (1 EVERY 1 DAY)
  506. DOXEPIN HYDROCHLORIDE [Interacting]
     Active Substance: DOXEPIN HYDROCHLORIDE
     Dosage: 50 MILLIGRAM, QD (1 EVERY 1 DAY)
  507. DOXEPIN HYDROCHLORIDE [Interacting]
     Active Substance: DOXEPIN HYDROCHLORIDE
     Dosage: 50 MILLIGRAM, QD (1 EVERY 1 DAY)
     Route: 048
  508. DOXEPIN HYDROCHLORIDE [Interacting]
     Active Substance: DOXEPIN HYDROCHLORIDE
     Dosage: 50 MILLIGRAM, QD (1 EVERY 1 DAY)
     Route: 048
  509. DOXEPIN HYDROCHLORIDE [Interacting]
     Active Substance: DOXEPIN HYDROCHLORIDE
     Route: 048
  510. DOXEPIN HYDROCHLORIDE [Interacting]
     Active Substance: DOXEPIN HYDROCHLORIDE
     Route: 048
  511. DOXEPIN HYDROCHLORIDE [Interacting]
     Active Substance: DOXEPIN HYDROCHLORIDE
  512. DOXEPIN HYDROCHLORIDE [Interacting]
     Active Substance: DOXEPIN HYDROCHLORIDE
  513. DOXEPIN HYDROCHLORIDE [Interacting]
     Active Substance: DOXEPIN HYDROCHLORIDE
     Dosage: 150 MILLIGRAM, QD (1 EVERY 1 DAYS)
     Route: 065
  514. DOXEPIN HYDROCHLORIDE [Interacting]
     Active Substance: DOXEPIN HYDROCHLORIDE
     Dosage: 150 MILLIGRAM, QD (1 EVERY 1 DAYS)
     Route: 065
  515. DOXEPIN HYDROCHLORIDE [Interacting]
     Active Substance: DOXEPIN HYDROCHLORIDE
     Dosage: 150 MILLIGRAM, QD (1 EVERY 1 DAYS)
  516. DOXEPIN HYDROCHLORIDE [Interacting]
     Active Substance: DOXEPIN HYDROCHLORIDE
     Dosage: 150 MILLIGRAM, QD (1 EVERY 1 DAYS)
  517. DOXEPIN HYDROCHLORIDE [Interacting]
     Active Substance: DOXEPIN HYDROCHLORIDE
     Route: 048
  518. DOXEPIN HYDROCHLORIDE [Interacting]
     Active Substance: DOXEPIN HYDROCHLORIDE
     Route: 048
  519. DOXEPIN HYDROCHLORIDE [Interacting]
     Active Substance: DOXEPIN HYDROCHLORIDE
  520. DOXEPIN HYDROCHLORIDE [Interacting]
     Active Substance: DOXEPIN HYDROCHLORIDE
  521. DOXEPIN HYDROCHLORIDE [Interacting]
     Active Substance: DOXEPIN HYDROCHLORIDE
  522. DOXEPIN HYDROCHLORIDE [Interacting]
     Active Substance: DOXEPIN HYDROCHLORIDE
  523. DOXEPIN HYDROCHLORIDE [Interacting]
     Active Substance: DOXEPIN HYDROCHLORIDE
     Route: 065
  524. DOXEPIN HYDROCHLORIDE [Interacting]
     Active Substance: DOXEPIN HYDROCHLORIDE
     Route: 065
  525. DOXEPIN [Interacting]
     Active Substance: DOXEPIN
     Indication: Major depression
     Dosage: 100 MILLIGRAM, QD (1 EVERY 1 DAYS)
  526. DOXEPIN [Interacting]
     Active Substance: DOXEPIN
     Dosage: 100 MILLIGRAM, QD (1 EVERY 1 DAYS)
  527. DOXEPIN [Interacting]
     Active Substance: DOXEPIN
     Dosage: 100 MILLIGRAM, QD (1 EVERY 1 DAYS)
     Route: 048
  528. DOXEPIN [Interacting]
     Active Substance: DOXEPIN
     Dosage: 100 MILLIGRAM, QD (1 EVERY 1 DAYS)
     Route: 048
  529. DOXEPIN [Interacting]
     Active Substance: DOXEPIN
  530. DOXEPIN [Interacting]
     Active Substance: DOXEPIN
  531. DOXEPIN [Interacting]
     Active Substance: DOXEPIN
     Route: 048
  532. DOXEPIN [Interacting]
     Active Substance: DOXEPIN
     Route: 048
  533. DOXEPIN [Interacting]
     Active Substance: DOXEPIN
  534. DOXEPIN [Interacting]
     Active Substance: DOXEPIN
     Route: 048
  535. DOXEPIN [Interacting]
     Active Substance: DOXEPIN
  536. DOXEPIN [Interacting]
     Active Substance: DOXEPIN
     Route: 048
  537. DOXEPIN [Interacting]
     Active Substance: DOXEPIN
     Dosage: 150 MILLIGRAM, QD (1 EVERY 1 DAYS)
  538. DOXEPIN [Interacting]
     Active Substance: DOXEPIN
     Dosage: 150 MILLIGRAM, QD (1 EVERY 1 DAYS)
  539. DOXEPIN [Interacting]
     Active Substance: DOXEPIN
     Dosage: 150 MILLIGRAM, QD (1 EVERY 1 DAYS)
     Route: 048
  540. DOXEPIN [Interacting]
     Active Substance: DOXEPIN
     Dosage: 150 MILLIGRAM, QD (1 EVERY 1 DAYS)
     Route: 048
  541. DOXEPIN [Interacting]
     Active Substance: DOXEPIN
  542. DOXEPIN [Interacting]
     Active Substance: DOXEPIN
  543. DOXEPIN [Interacting]
     Active Substance: DOXEPIN
     Route: 048
  544. DOXEPIN [Interacting]
     Active Substance: DOXEPIN
     Route: 048
  545. DOXEPIN [Interacting]
     Active Substance: DOXEPIN
     Dosage: 50 MILLIGRAM, QD (1 EVERY 1 DAYS)
  546. DOXEPIN [Interacting]
     Active Substance: DOXEPIN
     Dosage: 50 MILLIGRAM, QD (1 EVERY 1 DAYS)
  547. DOXEPIN [Interacting]
     Active Substance: DOXEPIN
     Dosage: 50 MILLIGRAM, QD (1 EVERY 1 DAYS)
     Route: 048
  548. DOXEPIN [Interacting]
     Active Substance: DOXEPIN
     Dosage: 50 MILLIGRAM, QD (1 EVERY 1 DAYS)
     Route: 048
  549. DOXEPIN [Interacting]
     Active Substance: DOXEPIN
     Dosage: 150 MILLIGRAM, QD (1 EVERY 1 DAYS)
  550. DOXEPIN [Interacting]
     Active Substance: DOXEPIN
     Dosage: 150 MILLIGRAM, QD (1 EVERY 1 DAYS)
  551. DOXEPIN [Interacting]
     Active Substance: DOXEPIN
     Dosage: 150 MILLIGRAM, QD (1 EVERY 1 DAYS)
     Route: 048
  552. DOXEPIN [Interacting]
     Active Substance: DOXEPIN
     Dosage: 150 MILLIGRAM, QD (1 EVERY 1 DAYS)
     Route: 048
  553. CYCLOBENZAPRINE [Interacting]
     Active Substance: CYCLOBENZAPRINE
     Indication: Scoliosis
     Dosage: 10 MILLIGRAM, TID (3 EVERY 1 DAYS)
     Route: 048
  554. CYCLOBENZAPRINE [Interacting]
     Active Substance: CYCLOBENZAPRINE
     Indication: Pain
     Dosage: 10 MILLIGRAM, TID (3 EVERY 1 DAYS)
  555. CYCLOBENZAPRINE [Interacting]
     Active Substance: CYCLOBENZAPRINE
     Dosage: 10 MILLIGRAM, TID (3 EVERY 1 DAYS)
  556. CYCLOBENZAPRINE [Interacting]
     Active Substance: CYCLOBENZAPRINE
     Dosage: 10 MILLIGRAM, TID (3 EVERY 1 DAYS)
     Route: 048
  557. CYCLOBENZAPRINE [Interacting]
     Active Substance: CYCLOBENZAPRINE
     Dosage: 10 MILLIGRAM, BID (2 EVERY 1 DAYS)
  558. CYCLOBENZAPRINE [Interacting]
     Active Substance: CYCLOBENZAPRINE
     Dosage: 10 MILLIGRAM, BID (2 EVERY 1 DAYS)
  559. CYCLOBENZAPRINE [Interacting]
     Active Substance: CYCLOBENZAPRINE
     Dosage: 10 MILLIGRAM, BID (2 EVERY 1 DAYS)
     Route: 048
  560. CYCLOBENZAPRINE [Interacting]
     Active Substance: CYCLOBENZAPRINE
     Dosage: 10 MILLIGRAM, BID (2 EVERY 1 DAYS)
     Route: 048
  561. CYCLOBENZAPRINE [Interacting]
     Active Substance: CYCLOBENZAPRINE
     Dosage: 50 MILLIEQUIVALENT, BID (2 EVERY 1 DAYS)
  562. CYCLOBENZAPRINE [Interacting]
     Active Substance: CYCLOBENZAPRINE
     Dosage: 50 MILLIEQUIVALENT, BID (2 EVERY 1 DAYS)
     Route: 048
  563. CYCLOBENZAPRINE [Interacting]
     Active Substance: CYCLOBENZAPRINE
     Dosage: 50 MILLIEQUIVALENT, BID (2 EVERY 1 DAYS)
  564. CYCLOBENZAPRINE [Interacting]
     Active Substance: CYCLOBENZAPRINE
     Dosage: 50 MILLIEQUIVALENT, BID (2 EVERY 1 DAYS)
     Route: 048
  565. CYCLOBENZAPRINE [Interacting]
     Active Substance: CYCLOBENZAPRINE
     Route: 065
  566. CYCLOBENZAPRINE [Interacting]
     Active Substance: CYCLOBENZAPRINE
  567. CYCLOBENZAPRINE [Interacting]
     Active Substance: CYCLOBENZAPRINE
  568. CYCLOBENZAPRINE [Interacting]
     Active Substance: CYCLOBENZAPRINE
     Route: 065
  569. CYCLOBENZAPRINE [Interacting]
     Active Substance: CYCLOBENZAPRINE
     Dosage: 3 DOSAGE FORM, QD (1 EVERY 1 DAYS)
     Route: 048
  570. CYCLOBENZAPRINE [Interacting]
     Active Substance: CYCLOBENZAPRINE
     Dosage: 3 DOSAGE FORM, QD (1 EVERY 1 DAYS)
  571. CYCLOBENZAPRINE [Interacting]
     Active Substance: CYCLOBENZAPRINE
     Dosage: 3 DOSAGE FORM, QD (1 EVERY 1 DAYS)
  572. CYCLOBENZAPRINE [Interacting]
     Active Substance: CYCLOBENZAPRINE
     Dosage: 3 DOSAGE FORM, QD (1 EVERY 1 DAYS)
     Route: 048
  573. CYCLOBENZAPRINE [Interacting]
     Active Substance: CYCLOBENZAPRINE
     Route: 048
  574. CYCLOBENZAPRINE [Interacting]
     Active Substance: CYCLOBENZAPRINE
  575. CYCLOBENZAPRINE [Interacting]
     Active Substance: CYCLOBENZAPRINE
  576. CYCLOBENZAPRINE [Interacting]
     Active Substance: CYCLOBENZAPRINE
     Route: 048
  577. CYCLOBENZAPRINE [Interacting]
     Active Substance: CYCLOBENZAPRINE
     Dosage: 50 MILLIGRAM, BID (2 EVERY 1 DAYS)
  578. CYCLOBENZAPRINE [Interacting]
     Active Substance: CYCLOBENZAPRINE
     Dosage: 50 MILLIGRAM, BID (2 EVERY 1 DAYS)
  579. CYCLOBENZAPRINE [Interacting]
     Active Substance: CYCLOBENZAPRINE
     Dosage: 50 MILLIGRAM, BID (2 EVERY 1 DAYS)
     Route: 048
  580. CYCLOBENZAPRINE [Interacting]
     Active Substance: CYCLOBENZAPRINE
     Dosage: 50 MILLIGRAM, BID (2 EVERY 1 DAYS)
     Route: 048
  581. CYCLOBENZAPRINE [Interacting]
     Active Substance: CYCLOBENZAPRINE
  582. CYCLOBENZAPRINE [Interacting]
     Active Substance: CYCLOBENZAPRINE
  583. CYCLOBENZAPRINE [Interacting]
     Active Substance: CYCLOBENZAPRINE
     Route: 048
  584. CYCLOBENZAPRINE [Interacting]
     Active Substance: CYCLOBENZAPRINE
     Route: 048
  585. QUETIAPINE [Interacting]
     Active Substance: QUETIAPINE
     Indication: Major depression
     Dosage: 50 MILLIGRAM, QID (4 EVERY 1 DAYS)
  586. QUETIAPINE [Interacting]
     Active Substance: QUETIAPINE
     Dosage: 50 MILLIGRAM, QID (4 EVERY 1 DAYS)
  587. QUETIAPINE [Interacting]
     Active Substance: QUETIAPINE
     Dosage: 50 MILLIGRAM, QID (4 EVERY 1 DAYS)
     Route: 065
  588. QUETIAPINE [Interacting]
     Active Substance: QUETIAPINE
     Dosage: 50 MILLIGRAM, QID (4 EVERY 1 DAYS)
     Route: 065
  589. QUETIAPINE [Interacting]
     Active Substance: QUETIAPINE
     Route: 048
  590. QUETIAPINE [Interacting]
     Active Substance: QUETIAPINE
     Route: 048
  591. QUETIAPINE [Interacting]
     Active Substance: QUETIAPINE
  592. QUETIAPINE [Interacting]
     Active Substance: QUETIAPINE
  593. QUETIAPINE [Interacting]
     Active Substance: QUETIAPINE
     Route: 048
  594. QUETIAPINE [Interacting]
     Active Substance: QUETIAPINE
     Route: 048
  595. QUETIAPINE [Interacting]
     Active Substance: QUETIAPINE
  596. QUETIAPINE [Interacting]
     Active Substance: QUETIAPINE
  597. QUETIAPINE [Interacting]
     Active Substance: QUETIAPINE
     Dosage: UNK, QD (1 EVERY 1 DAYS)
  598. QUETIAPINE [Interacting]
     Active Substance: QUETIAPINE
     Dosage: UNK, QD (1 EVERY 1 DAYS)
  599. QUETIAPINE [Interacting]
     Active Substance: QUETIAPINE
     Dosage: UNK, QD (1 EVERY 1 DAYS)
     Route: 048
  600. QUETIAPINE [Interacting]
     Active Substance: QUETIAPINE
     Dosage: UNK, QD (1 EVERY 1 DAYS)
     Route: 048
  601. QUETIAPINE [Interacting]
     Active Substance: QUETIAPINE
  602. QUETIAPINE [Interacting]
     Active Substance: QUETIAPINE
  603. QUETIAPINE [Interacting]
     Active Substance: QUETIAPINE
     Route: 065
  604. QUETIAPINE [Interacting]
     Active Substance: QUETIAPINE
     Route: 065
  605. QUETIAPINE [Interacting]
     Active Substance: QUETIAPINE
     Dosage: 100 MILLIGRAM, QD (1 EVERY 1 DAYS)
     Route: 048
  606. QUETIAPINE [Interacting]
     Active Substance: QUETIAPINE
     Dosage: 100 MILLIGRAM, QD (1 EVERY 1 DAYS)
     Route: 048
  607. QUETIAPINE [Interacting]
     Active Substance: QUETIAPINE
     Dosage: 100 MILLIGRAM, QD (1 EVERY 1 DAYS)
  608. QUETIAPINE [Interacting]
     Active Substance: QUETIAPINE
     Dosage: 100 MILLIGRAM, QD (1 EVERY 1 DAYS)
  609. QUETIAPINE [Interacting]
     Active Substance: QUETIAPINE
     Dosage: 50 MILLIGRAM, QID (4 EVERY 1 DAYS)
     Route: 048
  610. QUETIAPINE [Interacting]
     Active Substance: QUETIAPINE
     Dosage: 50 MILLIGRAM, QID (4 EVERY 1 DAYS)
  611. QUETIAPINE [Interacting]
     Active Substance: QUETIAPINE
     Dosage: 50 MILLIGRAM, QID (4 EVERY 1 DAYS)
  612. QUETIAPINE [Interacting]
     Active Substance: QUETIAPINE
     Dosage: 50 MILLIGRAM, QID (4 EVERY 1 DAYS)
     Route: 048
  613. RISPERDAL [Interacting]
     Active Substance: RISPERIDONE
     Indication: Affective disorder
     Dosage: 1 MILLIGRAM, QD (1 EVERY 1 DAYS)
  614. RISPERDAL [Interacting]
     Active Substance: RISPERIDONE
     Dosage: 1 MILLIGRAM, QD (1 EVERY 1 DAYS)
  615. RISPERDAL [Interacting]
     Active Substance: RISPERIDONE
     Dosage: 1 MILLIGRAM, QD (1 EVERY 1 DAYS)
     Route: 048
  616. RISPERDAL [Interacting]
     Active Substance: RISPERIDONE
     Dosage: 1 MILLIGRAM, QD (1 EVERY 1 DAYS)
     Route: 048
  617. RISPERDAL [Interacting]
     Active Substance: RISPERIDONE
     Dosage: 0.25 MILLIGRAM, QD (1 EVERY 1 DAYS)
  618. RISPERDAL [Interacting]
     Active Substance: RISPERIDONE
     Dosage: 0.25 MILLIGRAM, QD (1 EVERY 1 DAYS)
  619. RISPERDAL [Interacting]
     Active Substance: RISPERIDONE
     Dosage: 0.25 MILLIGRAM, QD (1 EVERY 1 DAYS)
     Route: 048
  620. RISPERDAL [Interacting]
     Active Substance: RISPERIDONE
     Dosage: 0.25 MILLIGRAM, QD (1 EVERY 1 DAYS)
     Route: 048
  621. RISPERDAL [Interacting]
     Active Substance: RISPERIDONE
     Dosage: 1 MILLIGRAM, QD (1 EVERY 1 DAYS)
  622. RISPERDAL [Interacting]
     Active Substance: RISPERIDONE
     Dosage: 1 MILLIGRAM, QD (1 EVERY 1 DAYS)
     Route: 065
  623. RISPERDAL [Interacting]
     Active Substance: RISPERIDONE
     Dosage: 1 MILLIGRAM, QD (1 EVERY 1 DAYS)
  624. RISPERDAL [Interacting]
     Active Substance: RISPERIDONE
     Dosage: 1 MILLIGRAM, QD (1 EVERY 1 DAYS)
     Route: 065
  625. DOXEPIN [Interacting]
     Active Substance: DOXEPIN
     Indication: Major depression
     Dosage: 50 MILLIGRAM, QD (1 EVERY 1 DAYS)
     Route: 048
  626. DOXEPIN [Interacting]
     Active Substance: DOXEPIN
     Dosage: 50 MILLIGRAM, QD (1 EVERY 1 DAYS)
  627. DOXEPIN [Interacting]
     Active Substance: DOXEPIN
     Dosage: 50 MILLIGRAM, QD (1 EVERY 1 DAYS)
  628. DOXEPIN [Interacting]
     Active Substance: DOXEPIN
     Dosage: 50 MILLIGRAM, QD (1 EVERY 1 DAYS)
     Route: 048
  629. DOXEPIN [Interacting]
     Active Substance: DOXEPIN
     Route: 048
  630. DOXEPIN [Interacting]
     Active Substance: DOXEPIN
  631. DOXEPIN [Interacting]
     Active Substance: DOXEPIN
  632. DOXEPIN [Interacting]
     Active Substance: DOXEPIN
     Route: 048
  633. DOXEPIN [Interacting]
     Active Substance: DOXEPIN
     Dosage: 150 MILLIGRAM, QD (1 EVERY 1 DAYS)
  634. DOXEPIN [Interacting]
     Active Substance: DOXEPIN
     Dosage: 150 MILLIGRAM, QD (1 EVERY 1 DAYS)
  635. DOXEPIN [Interacting]
     Active Substance: DOXEPIN
     Dosage: 150 MILLIGRAM, QD (1 EVERY 1 DAYS)
     Route: 048
  636. DOXEPIN [Interacting]
     Active Substance: DOXEPIN
     Dosage: 150 MILLIGRAM, QD (1 EVERY 1 DAYS)
     Route: 048
  637. DOXEPIN [Interacting]
     Active Substance: DOXEPIN
  638. DOXEPIN [Interacting]
     Active Substance: DOXEPIN
  639. DOXEPIN [Interacting]
     Active Substance: DOXEPIN
     Route: 048
  640. DOXEPIN [Interacting]
     Active Substance: DOXEPIN
     Route: 048
  641. DOXEPIN [Interacting]
     Active Substance: DOXEPIN
  642. DOXEPIN [Interacting]
     Active Substance: DOXEPIN
  643. DOXEPIN [Interacting]
     Active Substance: DOXEPIN
     Route: 048
  644. DOXEPIN [Interacting]
     Active Substance: DOXEPIN
     Route: 048
  645. DOXEPIN [Interacting]
     Active Substance: DOXEPIN
     Route: 048
  646. DOXEPIN [Interacting]
     Active Substance: DOXEPIN
  647. DOXEPIN [Interacting]
     Active Substance: DOXEPIN
  648. DOXEPIN [Interacting]
     Active Substance: DOXEPIN
     Route: 048
  649. DOXEPIN [Interacting]
     Active Substance: DOXEPIN
     Route: 048
  650. DOXEPIN [Interacting]
     Active Substance: DOXEPIN
  651. DOXEPIN [Interacting]
     Active Substance: DOXEPIN
  652. DOXEPIN [Interacting]
     Active Substance: DOXEPIN
     Route: 048
  653. DOXEPIN [Interacting]
     Active Substance: DOXEPIN
     Dosage: 150 MILLIGRAM, QD (1 EVERY 1 DAYS)
  654. DOXEPIN [Interacting]
     Active Substance: DOXEPIN
     Dosage: 150 MILLIGRAM, QD (1 EVERY 1 DAYS)
  655. DOXEPIN [Interacting]
     Active Substance: DOXEPIN
     Dosage: 150 MILLIGRAM, QD (1 EVERY 1 DAYS)
     Route: 048
  656. DOXEPIN [Interacting]
     Active Substance: DOXEPIN
     Dosage: 150 MILLIGRAM, QD (1 EVERY 1 DAYS)
     Route: 048
  657. DOXEPIN [Interacting]
     Active Substance: DOXEPIN
     Dosage: 100 MILLIGRAM, QD (1 EVERY 1 DAYS)
  658. DOXEPIN [Interacting]
     Active Substance: DOXEPIN
     Dosage: 100 MILLIGRAM, QD (1 EVERY 1 DAYS)
     Route: 048
  659. DOXEPIN [Interacting]
     Active Substance: DOXEPIN
     Dosage: 100 MILLIGRAM, QD (1 EVERY 1 DAYS)
  660. DOXEPIN [Interacting]
     Active Substance: DOXEPIN
     Dosage: 100 MILLIGRAM, QD (1 EVERY 1 DAYS)
     Route: 048
  661. SPIRIVA [Concomitant]
     Active Substance: TIOTROPIUM BROMIDE MONOHYDRATE
     Route: 065
  662. SPIRIVA [Concomitant]
     Active Substance: TIOTROPIUM BROMIDE MONOHYDRATE
  663. SPIRIVA [Concomitant]
     Active Substance: TIOTROPIUM BROMIDE MONOHYDRATE
  664. SPIRIVA [Concomitant]
     Active Substance: TIOTROPIUM BROMIDE MONOHYDRATE
     Route: 065
  665. SPIRIVA [Concomitant]
     Active Substance: TIOTROPIUM BROMIDE MONOHYDRATE
     Route: 065
  666. SPIRIVA [Concomitant]
     Active Substance: TIOTROPIUM BROMIDE MONOHYDRATE
  667. SPIRIVA [Concomitant]
     Active Substance: TIOTROPIUM BROMIDE MONOHYDRATE
  668. SPIRIVA [Concomitant]
     Active Substance: TIOTROPIUM BROMIDE MONOHYDRATE
     Route: 065
  669. TIOTROPIUM BROMIDE [Concomitant]
     Active Substance: TIOTROPIUM BROMIDE
     Indication: Chronic obstructive pulmonary disease
  670. TIOTROPIUM BROMIDE [Concomitant]
     Active Substance: TIOTROPIUM BROMIDE
  671. TIOTROPIUM BROMIDE [Concomitant]
     Active Substance: TIOTROPIUM BROMIDE
     Route: 055
  672. TIOTROPIUM BROMIDE [Concomitant]
     Active Substance: TIOTROPIUM BROMIDE
     Route: 055
  673. TIOTROPIUM BROMIDE [Concomitant]
     Active Substance: TIOTROPIUM BROMIDE
     Dosage: 5 MILLIGRAM, QD (1 EVERY 1 DAYS)
     Route: 065
  674. TIOTROPIUM BROMIDE [Concomitant]
     Active Substance: TIOTROPIUM BROMIDE
     Dosage: 5 MILLIGRAM, QD (1 EVERY 1 DAYS)
     Route: 065
  675. TIOTROPIUM BROMIDE [Concomitant]
     Active Substance: TIOTROPIUM BROMIDE
     Dosage: 5 MILLIGRAM, QD (1 EVERY 1 DAYS)
  676. TIOTROPIUM BROMIDE [Concomitant]
     Active Substance: TIOTROPIUM BROMIDE
     Dosage: 5 MILLIGRAM, QD (1 EVERY 1 DAYS)
  677. TIOTROPIUM BROMIDE [Concomitant]
     Active Substance: TIOTROPIUM BROMIDE
     Dosage: 5 MICROGRAM, QD (1 EVERY 24 HOURS)
     Route: 065
  678. TIOTROPIUM BROMIDE [Concomitant]
     Active Substance: TIOTROPIUM BROMIDE
     Dosage: 5 MICROGRAM, QD (1 EVERY 24 HOURS)
     Route: 065
  679. TIOTROPIUM BROMIDE [Concomitant]
     Active Substance: TIOTROPIUM BROMIDE
     Dosage: 5 MICROGRAM, QD (1 EVERY 24 HOURS)
  680. TIOTROPIUM BROMIDE [Concomitant]
     Active Substance: TIOTROPIUM BROMIDE
     Dosage: 5 MICROGRAM, QD (1 EVERY 24 HOURS)
  681. TIOTROPIUM BROMIDE [Concomitant]
     Active Substance: TIOTROPIUM BROMIDE
     Route: 065
  682. TIOTROPIUM BROMIDE [Concomitant]
     Active Substance: TIOTROPIUM BROMIDE
     Route: 065
  683. TIOTROPIUM BROMIDE [Concomitant]
     Active Substance: TIOTROPIUM BROMIDE
  684. TIOTROPIUM BROMIDE [Concomitant]
     Active Substance: TIOTROPIUM BROMIDE
  685. TIOTROPIUM BROMIDE [Concomitant]
     Active Substance: TIOTROPIUM BROMIDE
     Dosage: 5 MICROGRAM, QD (1 EVERY 1 DAYS)
     Route: 055
  686. TIOTROPIUM BROMIDE [Concomitant]
     Active Substance: TIOTROPIUM BROMIDE
     Dosage: 5 MICROGRAM, QD (1 EVERY 1 DAYS)
  687. TIOTROPIUM BROMIDE [Concomitant]
     Active Substance: TIOTROPIUM BROMIDE
     Dosage: 5 MICROGRAM, QD (1 EVERY 1 DAYS)
  688. TIOTROPIUM BROMIDE [Concomitant]
     Active Substance: TIOTROPIUM BROMIDE
     Dosage: 5 MICROGRAM, QD (1 EVERY 1 DAYS)
     Route: 055
  689. NALOXONE [Concomitant]
     Active Substance: NALOXONE
     Indication: Pain
  690. NALOXONE [Concomitant]
     Active Substance: NALOXONE
  691. NALOXONE [Concomitant]
     Active Substance: NALOXONE
     Route: 065
  692. NALOXONE [Concomitant]
     Active Substance: NALOXONE
     Route: 065
  693. NALOXONE [Concomitant]
     Active Substance: NALOXONE
     Dosage: 500 MILLIGRAM, BID
  694. NALOXONE [Concomitant]
     Active Substance: NALOXONE
     Dosage: 500 MILLIGRAM, BID
  695. NALOXONE [Concomitant]
     Active Substance: NALOXONE
     Dosage: 500 MILLIGRAM, BID
     Route: 048
  696. NALOXONE [Concomitant]
     Active Substance: NALOXONE
     Dosage: 500 MILLIGRAM, BID
     Route: 048
  697. NALOXONE [Concomitant]
     Active Substance: NALOXONE
  698. NALOXONE [Concomitant]
     Active Substance: NALOXONE
     Route: 048
  699. NALOXONE [Concomitant]
     Active Substance: NALOXONE
  700. NALOXONE [Concomitant]
     Active Substance: NALOXONE
     Route: 048
  701. ESTRADIOL [Concomitant]
     Active Substance: ESTRADIOL
     Indication: Endometriosis
     Dosage: 0.5 MILLIGRAM, QD (1 EVERY 1 DAYS)
     Route: 048
  702. ESTRADIOL [Concomitant]
     Active Substance: ESTRADIOL
     Dosage: 0.5 MILLIGRAM, QD (1 EVERY 1 DAYS)
  703. ESTRADIOL [Concomitant]
     Active Substance: ESTRADIOL
     Dosage: 0.5 MILLIGRAM, QD (1 EVERY 1 DAYS)
  704. ESTRADIOL [Concomitant]
     Active Substance: ESTRADIOL
     Dosage: 0.5 MILLIGRAM, QD (1 EVERY 1 DAYS)
     Route: 048
  705. ESTRADIOL [Concomitant]
     Active Substance: ESTRADIOL
     Route: 065
  706. ESTRADIOL [Concomitant]
     Active Substance: ESTRADIOL
  707. ESTRADIOL [Concomitant]
     Active Substance: ESTRADIOL
  708. ESTRADIOL [Concomitant]
     Active Substance: ESTRADIOL
     Route: 065
  709. FUROSEMIDE [Concomitant]
     Active Substance: FUROSEMIDE
     Indication: Oedema peripheral
  710. FUROSEMIDE [Concomitant]
     Active Substance: FUROSEMIDE
  711. FUROSEMIDE [Concomitant]
     Active Substance: FUROSEMIDE
     Route: 065
  712. FUROSEMIDE [Concomitant]
     Active Substance: FUROSEMIDE
     Route: 065
  713. FUROSEMIDE [Concomitant]
     Active Substance: FUROSEMIDE
     Dosage: 40 MILLIGRAM, QD (1 EVERY 1 DAYS)
  714. FUROSEMIDE [Concomitant]
     Active Substance: FUROSEMIDE
     Dosage: 40 MILLIGRAM, QD (1 EVERY 1 DAYS)
  715. FUROSEMIDE [Concomitant]
     Active Substance: FUROSEMIDE
     Dosage: 40 MILLIGRAM, QD (1 EVERY 1 DAYS)
     Route: 048
  716. FUROSEMIDE [Concomitant]
     Active Substance: FUROSEMIDE
     Dosage: 40 MILLIGRAM, QD (1 EVERY 1 DAYS)
     Route: 048
  717. FUROSEMIDE [Concomitant]
     Active Substance: FUROSEMIDE
  718. FUROSEMIDE [Concomitant]
     Active Substance: FUROSEMIDE
     Route: 048
  719. FUROSEMIDE [Concomitant]
     Active Substance: FUROSEMIDE
  720. FUROSEMIDE [Concomitant]
     Active Substance: FUROSEMIDE
     Route: 048
  721. ALBUTEROL [Concomitant]
     Active Substance: ALBUTEROL
     Indication: Chronic obstructive pulmonary disease
     Route: 065
  722. ALBUTEROL [Concomitant]
     Active Substance: ALBUTEROL
     Route: 065
  723. ALBUTEROL [Concomitant]
     Active Substance: ALBUTEROL
  724. ALBUTEROL [Concomitant]
     Active Substance: ALBUTEROL
  725. ALBUTEROL [Concomitant]
     Active Substance: ALBUTEROL
     Route: 055
  726. ALBUTEROL [Concomitant]
     Active Substance: ALBUTEROL
     Route: 055
  727. ALBUTEROL [Concomitant]
     Active Substance: ALBUTEROL
  728. ALBUTEROL [Concomitant]
     Active Substance: ALBUTEROL
  729. ALBUTEROL [Concomitant]
     Active Substance: ALBUTEROL
     Dosage: 200 MICROGRAM, BID (2 EVERY 1 DAYS)
     Route: 065
  730. ALBUTEROL [Concomitant]
     Active Substance: ALBUTEROL
     Dosage: 200 MICROGRAM, BID (2 EVERY 1 DAYS)
     Route: 065
  731. ALBUTEROL [Concomitant]
     Active Substance: ALBUTEROL
     Dosage: 200 MICROGRAM, BID (2 EVERY 1 DAYS)
  732. ALBUTEROL [Concomitant]
     Active Substance: ALBUTEROL
     Dosage: 200 MICROGRAM, BID (2 EVERY 1 DAYS)
  733. ALBUTEROL [Concomitant]
     Active Substance: ALBUTEROL
     Route: 055
  734. ALBUTEROL [Concomitant]
     Active Substance: ALBUTEROL
     Route: 055
  735. ALBUTEROL [Concomitant]
     Active Substance: ALBUTEROL
  736. ALBUTEROL [Concomitant]
     Active Substance: ALBUTEROL
  737. ALBUTEROL [Concomitant]
     Active Substance: ALBUTEROL
  738. ALBUTEROL [Concomitant]
     Active Substance: ALBUTEROL
  739. ALBUTEROL [Concomitant]
     Active Substance: ALBUTEROL
     Route: 065
  740. ALBUTEROL [Concomitant]
     Active Substance: ALBUTEROL
     Route: 065
  741. ATENOLOL [Concomitant]
     Active Substance: ATENOLOL
     Indication: Hypertension
     Dosage: 50 MILLIGRAM, QD (1 EVERY 24 HOURS)
  742. ATENOLOL [Concomitant]
     Active Substance: ATENOLOL
     Dosage: 50 MILLIGRAM, QD (1 EVERY 24 HOURS)
  743. ATENOLOL [Concomitant]
     Active Substance: ATENOLOL
     Dosage: 50 MILLIGRAM, QD (1 EVERY 24 HOURS)
     Route: 048
  744. ATENOLOL [Concomitant]
     Active Substance: ATENOLOL
     Dosage: 50 MILLIGRAM, QD (1 EVERY 24 HOURS)
     Route: 048
  745. ATENOLOL [Concomitant]
     Active Substance: ATENOLOL
     Route: 048
  746. ATENOLOL [Concomitant]
     Active Substance: ATENOLOL
  747. ATENOLOL [Concomitant]
     Active Substance: ATENOLOL
  748. ATENOLOL [Concomitant]
     Active Substance: ATENOLOL
     Route: 048
  749. ATENOLOL [Concomitant]
     Active Substance: ATENOLOL
  750. ATENOLOL [Concomitant]
     Active Substance: ATENOLOL
  751. ATENOLOL [Concomitant]
     Active Substance: ATENOLOL
     Route: 065
  752. ATENOLOL [Concomitant]
     Active Substance: ATENOLOL
     Route: 065
  753. ATENOLOL [Concomitant]
     Active Substance: ATENOLOL
     Dosage: 50 MILLIGRAM, QD (1 EVERY 1 DAYS)
     Route: 048
  754. ATENOLOL [Concomitant]
     Active Substance: ATENOLOL
     Dosage: 50 MILLIGRAM, QD (1 EVERY 1 DAYS)
  755. ATENOLOL [Concomitant]
     Active Substance: ATENOLOL
     Dosage: 50 MILLIGRAM, QD (1 EVERY 1 DAYS)
  756. ATENOLOL [Concomitant]
     Active Substance: ATENOLOL
     Dosage: 50 MILLIGRAM, QD (1 EVERY 1 DAYS)
     Route: 048
  757. CLONIDINE [Concomitant]
     Active Substance: CLONIDINE
     Indication: Drug withdrawal syndrome
     Route: 065
  758. CLONIDINE [Concomitant]
     Active Substance: CLONIDINE
  759. CLONIDINE [Concomitant]
     Active Substance: CLONIDINE
  760. CLONIDINE [Concomitant]
     Active Substance: CLONIDINE
     Route: 065
  761. CLONIDINE [Concomitant]
     Active Substance: CLONIDINE
     Route: 065
  762. CLONIDINE [Concomitant]
     Active Substance: CLONIDINE
  763. CLONIDINE [Concomitant]
     Active Substance: CLONIDINE
  764. CLONIDINE [Concomitant]
     Active Substance: CLONIDINE
     Route: 065
  765. NAPROXEN [Concomitant]
     Active Substance: NAPROXEN
     Indication: Scoliosis
     Dosage: 500 MILLIGRAM, BID ( 2 EVERY 1 DAYS)
  766. NAPROXEN [Concomitant]
     Active Substance: NAPROXEN
     Indication: Pain
     Dosage: 500 MILLIGRAM, BID ( 2 EVERY 1 DAYS)
  767. NAPROXEN [Concomitant]
     Active Substance: NAPROXEN
     Dosage: 500 MILLIGRAM, BID ( 2 EVERY 1 DAYS)
     Route: 048
  768. NAPROXEN [Concomitant]
     Active Substance: NAPROXEN
     Dosage: 500 MILLIGRAM, BID ( 2 EVERY 1 DAYS)
     Route: 048
  769. NAPROXEN [Concomitant]
     Active Substance: NAPROXEN
     Route: 048
  770. NAPROXEN [Concomitant]
     Active Substance: NAPROXEN
     Route: 048
  771. NAPROXEN [Concomitant]
     Active Substance: NAPROXEN
  772. NAPROXEN [Concomitant]
     Active Substance: NAPROXEN
  773. NAPROXEN [Concomitant]
     Active Substance: NAPROXEN
     Dosage: 5 MICROGRAM, QD (1 EVERY 1 DAYS)
     Route: 048
  774. NAPROXEN [Concomitant]
     Active Substance: NAPROXEN
     Dosage: 5 MICROGRAM, QD (1 EVERY 1 DAYS)
     Route: 048
  775. NAPROXEN [Concomitant]
     Active Substance: NAPROXEN
     Dosage: 5 MICROGRAM, QD (1 EVERY 1 DAYS)
  776. NAPROXEN [Concomitant]
     Active Substance: NAPROXEN
     Dosage: 5 MICROGRAM, QD (1 EVERY 1 DAYS)
  777. NAPROXEN [Concomitant]
     Active Substance: NAPROXEN
  778. NAPROXEN [Concomitant]
     Active Substance: NAPROXEN
  779. NAPROXEN [Concomitant]
     Active Substance: NAPROXEN
     Route: 065
  780. NAPROXEN [Concomitant]
     Active Substance: NAPROXEN
     Route: 065
  781. TIOTROPIUM BROMIDE MONOHYDRATE [Concomitant]
     Active Substance: TIOTROPIUM BROMIDE MONOHYDRATE
  782. TIOTROPIUM BROMIDE MONOHYDRATE [Concomitant]
     Active Substance: TIOTROPIUM BROMIDE MONOHYDRATE
     Route: 065
  783. TIOTROPIUM BROMIDE MONOHYDRATE [Concomitant]
     Active Substance: TIOTROPIUM BROMIDE MONOHYDRATE
     Route: 065
  784. TIOTROPIUM BROMIDE MONOHYDRATE [Concomitant]
     Active Substance: TIOTROPIUM BROMIDE MONOHYDRATE

REACTIONS (7)
  - Depressed level of consciousness [Unknown]
  - Respiratory depression [Unknown]
  - Toxicity to various agents [Unknown]
  - Drug interaction [Unknown]
  - Mania [Recovering/Resolving]
  - Multiple drug therapy [Recovering/Resolving]
  - Off label use [Unknown]
